FAERS Safety Report 24532379 (Version 3)
Quarter: 2025Q3

REPORT INFORMATION
  Report Type: Spontaneous
  Country: CA (occurrence: CA)
  Receive Date: 20241022
  Receipt Date: 20250718
  Transmission Date: 20251020
  Serious: Yes (Death, Life-Threatening, Hospitalization, Disabling, Congenital Anomaly, Other)
  Sender: ALCON
  Company Number: CA-ALCON LABORATORIES-ALC2024CA004636

PATIENT
  Age: 40 Year
  Sex: Female
  Weight: 96 kg

DRUGS (1193)
  1. ACETAMINOPHEN [Suspect]
     Active Substance: ACETAMINOPHEN
     Route: 065
  2. ACETAMINOPHEN [Suspect]
     Active Substance: ACETAMINOPHEN
     Route: 065
  3. ACETAMINOPHEN [Suspect]
     Active Substance: ACETAMINOPHEN
     Route: 065
  4. ACETAMINOPHEN [Suspect]
     Active Substance: ACETAMINOPHEN
     Route: 065
  5. ACETAMINOPHEN [Suspect]
     Active Substance: ACETAMINOPHEN
     Route: 058
  6. ACETAMINOPHEN [Suspect]
     Active Substance: ACETAMINOPHEN
     Indication: Rheumatoid arthritis
     Route: 065
  7. ACETAMINOPHEN [Suspect]
     Active Substance: ACETAMINOPHEN
     Route: 065
  8. ACETAMINOPHEN [Suspect]
     Active Substance: ACETAMINOPHEN
     Route: 065
  9. ACETAMINOPHEN [Suspect]
     Active Substance: ACETAMINOPHEN
     Route: 065
  10. ACETAMINOPHEN [Suspect]
     Active Substance: ACETAMINOPHEN
     Route: 065
  11. ACETAMINOPHEN [Suspect]
     Active Substance: ACETAMINOPHEN
     Route: 065
  12. ACETAMINOPHEN [Suspect]
     Active Substance: ACETAMINOPHEN
     Route: 065
  13. ACETAMINOPHEN [Suspect]
     Active Substance: ACETAMINOPHEN
     Route: 065
  14. ACETAMINOPHEN\CODEINE PHOSPHATE [Suspect]
     Active Substance: ACETAMINOPHEN\CODEINE PHOSPHATE
     Indication: Product used for unknown indication
     Route: 065
  15. ACETAMINOPHEN\CODEINE PHOSPHATE [Suspect]
     Active Substance: ACETAMINOPHEN\CODEINE PHOSPHATE
     Route: 065
  16. ACETAMINOPHEN\CODEINE PHOSPHATE [Suspect]
     Active Substance: ACETAMINOPHEN\CODEINE PHOSPHATE
     Route: 065
  17. ACETAMINOPHEN\CODEINE PHOSPHATE [Suspect]
     Active Substance: ACETAMINOPHEN\CODEINE PHOSPHATE
     Route: 065
  18. ACTEMRA [Suspect]
     Active Substance: TOCILIZUMAB
     Route: 065
  19. ACTEMRA [Suspect]
     Active Substance: TOCILIZUMAB
     Route: 058
  20. ACTEMRA [Suspect]
     Active Substance: TOCILIZUMAB
     Route: 058
  21. ACTEMRA [Suspect]
     Active Substance: TOCILIZUMAB
     Route: 058
  22. ACTEMRA [Suspect]
     Active Substance: TOCILIZUMAB
     Route: 058
  23. ACTEMRA [Suspect]
     Active Substance: TOCILIZUMAB
     Route: 065
  24. ACTEMRA [Suspect]
     Active Substance: TOCILIZUMAB
     Route: 058
  25. ACTEMRA [Suspect]
     Active Substance: TOCILIZUMAB
     Route: 058
  26. ACTEMRA [Suspect]
     Active Substance: TOCILIZUMAB
     Route: 065
  27. ACTEMRA [Suspect]
     Active Substance: TOCILIZUMAB
     Route: 042
  28. ACTEMRA [Suspect]
     Active Substance: TOCILIZUMAB
     Route: 042
  29. ACTEMRA [Suspect]
     Active Substance: TOCILIZUMAB
     Route: 058
  30. ACTEMRA [Suspect]
     Active Substance: TOCILIZUMAB
     Route: 042
  31. ACTEMRA [Suspect]
     Active Substance: TOCILIZUMAB
     Route: 065
  32. ACTEMRA [Suspect]
     Active Substance: TOCILIZUMAB
     Route: 042
  33. ACTEMRA [Suspect]
     Active Substance: TOCILIZUMAB
     Route: 042
  34. ACTEMRA [Suspect]
     Active Substance: TOCILIZUMAB
     Route: 058
  35. ACTEMRA [Suspect]
     Active Substance: TOCILIZUMAB
     Route: 017
  36. ACTEMRA [Suspect]
     Active Substance: TOCILIZUMAB
     Route: 042
  37. ACTEMRA [Suspect]
     Active Substance: TOCILIZUMAB
     Route: 058
  38. ACTEMRA [Suspect]
     Active Substance: TOCILIZUMAB
     Route: 058
  39. ACTEMRA [Suspect]
     Active Substance: TOCILIZUMAB
     Route: 042
  40. ACTEMRA [Suspect]
     Active Substance: TOCILIZUMAB
     Route: 042
  41. ACTEMRA [Suspect]
     Active Substance: TOCILIZUMAB
     Route: 042
  42. ACTEMRA [Suspect]
     Active Substance: TOCILIZUMAB
     Route: 042
  43. ACTEMRA [Suspect]
     Active Substance: TOCILIZUMAB
     Route: 042
  44. ACTEMRA [Suspect]
     Active Substance: TOCILIZUMAB
     Route: 058
  45. ACTEMRA [Suspect]
     Active Substance: TOCILIZUMAB
     Route: 058
  46. ACTEMRA [Suspect]
     Active Substance: TOCILIZUMAB
     Route: 042
  47. ACTEMRA [Suspect]
     Active Substance: TOCILIZUMAB
     Route: 058
  48. ACTEMRA [Suspect]
     Active Substance: TOCILIZUMAB
     Route: 058
  49. ACTEMRA [Suspect]
     Active Substance: TOCILIZUMAB
     Route: 058
  50. ACTEMRA [Suspect]
     Active Substance: TOCILIZUMAB
     Route: 061
  51. ACTEMRA [Suspect]
     Active Substance: TOCILIZUMAB
     Indication: Rheumatoid arthritis
     Route: 065
  52. ACTEMRA [Suspect]
     Active Substance: TOCILIZUMAB
     Route: 065
  53. ACTEMRA [Suspect]
     Active Substance: TOCILIZUMAB
     Route: 065
  54. ADALIMUMAB [Suspect]
     Active Substance: ADALIMUMAB
     Indication: Rheumatoid arthritis
     Route: 058
  55. ADALIMUMAB [Suspect]
     Active Substance: ADALIMUMAB
     Route: 058
  56. ADALIMUMAB [Suspect]
     Active Substance: ADALIMUMAB
     Route: 058
  57. ADALIMUMAB [Suspect]
     Active Substance: ADALIMUMAB
     Route: 058
  58. ADALIMUMAB [Suspect]
     Active Substance: ADALIMUMAB
     Route: 065
  59. ADALIMUMAB [Suspect]
     Active Substance: ADALIMUMAB
     Route: 058
  60. ADALIMUMAB [Suspect]
     Active Substance: ADALIMUMAB
     Route: 058
  61. AIMOVIG [Suspect]
     Active Substance: ERENUMAB-AOOE
     Indication: Migraine
     Route: 065
  62. AIMOVIG [Suspect]
     Active Substance: ERENUMAB-AOOE
     Route: 065
  63. AIMOVIG [Suspect]
     Active Substance: ERENUMAB-AOOE
     Route: 065
  64. AIMOVIG [Suspect]
     Active Substance: ERENUMAB-AOOE
     Route: 065
  65. AIMOVIG [Suspect]
     Active Substance: ERENUMAB-AOOE
     Route: 065
  66. AIMOVIG [Suspect]
     Active Substance: ERENUMAB-AOOE
     Route: 065
  67. AIMOVIG [Suspect]
     Active Substance: ERENUMAB-AOOE
     Route: 065
  68. AIMOVIG [Suspect]
     Active Substance: ERENUMAB-AOOE
     Route: 065
  69. ALENDRONATE SODIUM [Suspect]
     Active Substance: ALENDRONATE SODIUM
     Route: 048
  70. ALENDRONATE SODIUM [Suspect]
     Active Substance: ALENDRONATE SODIUM
     Route: 048
  71. ALENDRONATE SODIUM [Suspect]
     Active Substance: ALENDRONATE SODIUM
     Indication: Rheumatoid arthritis
     Route: 065
  72. ALENDRONATE SODIUM [Suspect]
     Active Substance: ALENDRONATE SODIUM
     Route: 065
  73. ALENDRONATE SODIUM [Suspect]
     Active Substance: ALENDRONATE SODIUM
     Route: 065
  74. ALENDRONIC ACID [Suspect]
     Active Substance: ALENDRONIC ACID
     Route: 005
  75. ALENDRONIC ACID [Suspect]
     Active Substance: ALENDRONIC ACID
     Route: 016
  76. ALENDRONIC ACID [Suspect]
     Active Substance: ALENDRONIC ACID
     Route: 048
  77. ALENDRONIC ACID [Suspect]
     Active Substance: ALENDRONIC ACID
     Route: 048
  78. ALENDRONIC ACID [Suspect]
     Active Substance: ALENDRONIC ACID
     Indication: Rheumatoid arthritis
     Route: 065
  79. ALENDRONIC ACID [Suspect]
     Active Substance: ALENDRONIC ACID
     Route: 065
  80. ALENDRONIC ACID [Suspect]
     Active Substance: ALENDRONIC ACID
     Route: 065
  81. ALENDRONIC ACID [Suspect]
     Active Substance: ALENDRONIC ACID
     Route: 065
  82. ALENDRONIC ACID [Suspect]
     Active Substance: ALENDRONIC ACID
     Route: 065
  83. ALENDRONIC ACID [Suspect]
     Active Substance: ALENDRONIC ACID
     Route: 065
  84. ALENDRONIC ACID [Suspect]
     Active Substance: ALENDRONIC ACID
     Route: 065
  85. ALENDRONIC ACID [Suspect]
     Active Substance: ALENDRONIC ACID
     Route: 065
  86. ALENDRONIC ACID [Suspect]
     Active Substance: ALENDRONIC ACID
     Route: 065
  87. ALENDRONIC ACID [Suspect]
     Active Substance: ALENDRONIC ACID
     Route: 065
  88. DICLOFENAC SODIUM [Suspect]
     Active Substance: DICLOFENAC SODIUM
     Indication: Product used for unknown indication
     Route: 065
  89. LEFLUNOMIDE [Suspect]
     Active Substance: LEFLUNOMIDE
     Route: 065
  90. LEFLUNOMIDE [Suspect]
     Active Substance: LEFLUNOMIDE
     Route: 048
  91. LEFLUNOMIDE [Suspect]
     Active Substance: LEFLUNOMIDE
     Route: 048
  92. LEFLUNOMIDE [Suspect]
     Active Substance: LEFLUNOMIDE
     Route: 065
  93. LEFLUNOMIDE [Suspect]
     Active Substance: LEFLUNOMIDE
     Route: 048
  94. LEFLUNOMIDE [Suspect]
     Active Substance: LEFLUNOMIDE
     Route: 065
  95. LEFLUNOMIDE [Suspect]
     Active Substance: LEFLUNOMIDE
     Route: 065
  96. LEFLUNOMIDE [Suspect]
     Active Substance: LEFLUNOMIDE
     Route: 065
  97. LEFLUNOMIDE [Suspect]
     Active Substance: LEFLUNOMIDE
     Route: 065
  98. LEFLUNOMIDE [Suspect]
     Active Substance: LEFLUNOMIDE
     Route: 065
  99. LEFLUNOMIDE [Suspect]
     Active Substance: LEFLUNOMIDE
     Route: 065
  100. LEFLUNOMIDE [Suspect]
     Active Substance: LEFLUNOMIDE
     Route: 065
  101. LEFLUNOMIDE [Suspect]
     Active Substance: LEFLUNOMIDE
     Indication: Rheumatoid arthritis
     Route: 065
  102. PREDNISONE [Suspect]
     Active Substance: PREDNISONE
     Route: 048
  103. PREDNISONE [Suspect]
     Active Substance: PREDNISONE
     Route: 065
  104. PREDNISONE [Suspect]
     Active Substance: PREDNISONE
     Route: 065
  105. PREDNISONE [Suspect]
     Active Substance: PREDNISONE
     Route: 065
  106. PREDNISONE [Suspect]
     Active Substance: PREDNISONE
     Route: 065
  107. PREDNISONE [Suspect]
     Active Substance: PREDNISONE
     Route: 048
  108. PREDNISONE [Suspect]
     Active Substance: PREDNISONE
     Route: 048
  109. PREDNISONE [Suspect]
     Active Substance: PREDNISONE
     Route: 048
  110. PREDNISONE [Suspect]
     Active Substance: PREDNISONE
     Route: 065
  111. PREDNISONE [Suspect]
     Active Substance: PREDNISONE
     Route: 065
  112. PREDNISONE [Suspect]
     Active Substance: PREDNISONE
     Route: 065
  113. PREDNISONE [Suspect]
     Active Substance: PREDNISONE
     Route: 065
  114. PREDNISONE [Suspect]
     Active Substance: PREDNISONE
     Route: 065
  115. PREDNISONE [Suspect]
     Active Substance: PREDNISONE
     Route: 048
  116. PREDNISONE [Suspect]
     Active Substance: PREDNISONE
     Route: 048
  117. PREDNISONE [Suspect]
     Active Substance: PREDNISONE
     Route: 048
  118. PREDNISONE [Suspect]
     Active Substance: PREDNISONE
     Route: 048
  119. PREDNISONE [Suspect]
     Active Substance: PREDNISONE
     Route: 065
  120. PREDNISONE [Suspect]
     Active Substance: PREDNISONE
     Route: 065
  121. PREDNISONE [Suspect]
     Active Substance: PREDNISONE
     Route: 065
  122. PREDNISONE [Suspect]
     Active Substance: PREDNISONE
     Route: 048
  123. PREDNISONE [Suspect]
     Active Substance: PREDNISONE
     Route: 048
  124. PREDNISONE [Suspect]
     Active Substance: PREDNISONE
     Route: 048
  125. PREDNISONE [Suspect]
     Active Substance: PREDNISONE
     Route: 048
  126. PREDNISONE [Suspect]
     Active Substance: PREDNISONE
     Route: 048
  127. PREDNISONE [Suspect]
     Active Substance: PREDNISONE
     Route: 048
  128. PREDNISONE [Suspect]
     Active Substance: PREDNISONE
     Route: 048
  129. PREDNISONE [Suspect]
     Active Substance: PREDNISONE
     Route: 048
  130. PREDNISONE [Suspect]
     Active Substance: PREDNISONE
     Indication: Rheumatoid arthritis
     Route: 065
  131. PREDNISONE [Suspect]
     Active Substance: PREDNISONE
     Route: 065
  132. PREDNISONE [Suspect]
     Active Substance: PREDNISONE
     Route: 065
  133. PREDNISONE [Suspect]
     Active Substance: PREDNISONE
     Route: 065
  134. PREDNISONE [Suspect]
     Active Substance: PREDNISONE
     Route: 048
  135. PREDNISONE [Suspect]
     Active Substance: PREDNISONE
     Route: 048
  136. APREMILAST [Suspect]
     Active Substance: APREMILAST
     Route: 065
  137. APREMILAST [Suspect]
     Active Substance: APREMILAST
     Route: 065
  138. APREMILAST [Suspect]
     Active Substance: APREMILAST
     Route: 065
  139. APREMILAST [Suspect]
     Active Substance: APREMILAST
     Indication: Product used for unknown indication
     Route: 065
  140. ARAVA [Suspect]
     Active Substance: LEFLUNOMIDE
     Route: 005
  141. ARAVA [Suspect]
     Active Substance: LEFLUNOMIDE
     Route: 048
  142. ARAVA [Suspect]
     Active Substance: LEFLUNOMIDE
     Route: 048
  143. ARAVA [Suspect]
     Active Substance: LEFLUNOMIDE
     Route: 065
  144. ARAVA [Suspect]
     Active Substance: LEFLUNOMIDE
     Route: 048
  145. ARAVA [Suspect]
     Active Substance: LEFLUNOMIDE
     Route: 065
  146. ARAVA [Suspect]
     Active Substance: LEFLUNOMIDE
     Route: 005
  147. ARAVA [Suspect]
     Active Substance: LEFLUNOMIDE
     Indication: Rheumatoid arthritis
     Route: 065
  148. ARAVA [Suspect]
     Active Substance: LEFLUNOMIDE
     Route: 065
  149. ATOMOXETINE [Suspect]
     Active Substance: ATOMOXETINE
     Route: 065
  150. ATOMOXETINE [Suspect]
     Active Substance: ATOMOXETINE
     Route: 065
  151. ATOMOXETINE [Suspect]
     Active Substance: ATOMOXETINE
     Route: 065
  152. ATOMOXETINE [Suspect]
     Active Substance: ATOMOXETINE
     Route: 065
  153. ATOMOXETINE [Suspect]
     Active Substance: ATOMOXETINE
     Route: 065
  154. ATOMOXETINE [Suspect]
     Active Substance: ATOMOXETINE
     Indication: Migraine
     Route: 065
  155. ATOMOXETINE HYDROCHLORIDE [Suspect]
     Active Substance: ATOMOXETINE HYDROCHLORIDE
     Indication: Migraine
     Route: 065
  156. ATOMOXETINE HYDROCHLORIDE [Suspect]
     Active Substance: ATOMOXETINE HYDROCHLORIDE
     Route: 065
  157. AZATHIOPRINE [Suspect]
     Active Substance: AZATHIOPRINE
     Indication: Product used for unknown indication
     Route: 065
  158. AZATHIOPRINE [Suspect]
     Active Substance: AZATHIOPRINE
     Route: 065
  159. AZATHIOPRINE SODIUM [Suspect]
     Active Substance: AZATHIOPRINE SODIUM
     Route: 065
  160. AZATHIOPRINE SODIUM [Suspect]
     Active Substance: AZATHIOPRINE SODIUM
     Indication: Product used for unknown indication
     Route: 065
  161. BERINERT [Suspect]
     Active Substance: HUMAN C1-ESTERASE INHIBITOR
     Indication: Product used for unknown indication
     Route: 065
  162. BERINERT [Suspect]
     Active Substance: HUMAN C1-ESTERASE INHIBITOR
     Route: 065
  163. BERINERT [Suspect]
     Active Substance: HUMAN C1-ESTERASE INHIBITOR
     Route: 065
  164. BOTULINUM TOXIN TYPE A [Suspect]
     Active Substance: BOTULINUM TOXIN TYPE A
     Indication: Product used for unknown indication
     Route: 065
  165. BOTULINUM TOXIN TYPE A [Suspect]
     Active Substance: BOTULINUM TOXIN TYPE A
     Route: 065
  166. BUTRANS [Suspect]
     Active Substance: BUPRENORPHINE
     Indication: Product used for unknown indication
     Route: 065
  167. BUTRANS [Suspect]
     Active Substance: BUPRENORPHINE
     Route: 065
  168. CALCIUM ASCORBATE [Suspect]
     Active Substance: CALCIUM ASCORBATE
     Indication: Product used for unknown indication
     Route: 065
  169. CALCIUM ASCORBATE [Suspect]
     Active Substance: CALCIUM ASCORBATE
     Route: 065
  170. CALCIUM CITRATE [Suspect]
     Active Substance: CALCIUM CITRATE
     Indication: Product used for unknown indication
     Route: 065
  171. CALCIUM GLUBIONATE [Suspect]
     Active Substance: CALCIUM GLUBIONATE
     Indication: Product used for unknown indication
     Route: 065
  172. CANDESARTAN [Suspect]
     Active Substance: CANDESARTAN
     Route: 048
  173. CANDESARTAN [Suspect]
     Active Substance: CANDESARTAN
     Route: 048
  174. CANDESARTAN [Suspect]
     Active Substance: CANDESARTAN
     Indication: Product used for unknown indication
     Route: 065
  175. CELEBREX [Suspect]
     Active Substance: CELECOXIB
     Indication: Product used for unknown indication
     Route: 065
  176. CELEBREX [Suspect]
     Active Substance: CELECOXIB
     Route: 065
  177. CELEBREX [Suspect]
     Active Substance: CELECOXIB
     Route: 065
  178. CELEBREX [Suspect]
     Active Substance: CELECOXIB
     Route: 065
  179. CELEBREX [Suspect]
     Active Substance: CELECOXIB
     Route: 065
  180. CELEBREX [Suspect]
     Active Substance: CELECOXIB
     Route: 048
  181. CELEBREX [Suspect]
     Active Substance: CELECOXIB
     Route: 048
  182. CELEBREX [Suspect]
     Active Substance: CELECOXIB
     Route: 048
  183. CELEBREX [Suspect]
     Active Substance: CELECOXIB
     Route: 048
  184. CELEBREX [Suspect]
     Active Substance: CELECOXIB
     Route: 065
  185. CERTOLIZUMAB PEGOL [Suspect]
     Active Substance: CERTOLIZUMAB PEGOL
     Route: 058
  186. CERTOLIZUMAB PEGOL [Suspect]
     Active Substance: CERTOLIZUMAB PEGOL
     Route: 058
  187. CERTOLIZUMAB PEGOL [Suspect]
     Active Substance: CERTOLIZUMAB PEGOL
     Route: 058
  188. CERTOLIZUMAB PEGOL [Suspect]
     Active Substance: CERTOLIZUMAB PEGOL
     Route: 058
  189. CERTOLIZUMAB PEGOL [Suspect]
     Active Substance: CERTOLIZUMAB PEGOL
     Route: 005
  190. CERTOLIZUMAB PEGOL [Suspect]
     Active Substance: CERTOLIZUMAB PEGOL
     Route: 016
  191. CERTOLIZUMAB PEGOL [Suspect]
     Active Substance: CERTOLIZUMAB PEGOL
     Route: 058
  192. CERTOLIZUMAB PEGOL [Suspect]
     Active Substance: CERTOLIZUMAB PEGOL
     Route: 058
  193. CERTOLIZUMAB PEGOL [Suspect]
     Active Substance: CERTOLIZUMAB PEGOL
     Route: 065
  194. CERTOLIZUMAB PEGOL [Suspect]
     Active Substance: CERTOLIZUMAB PEGOL
     Route: 065
  195. CERTOLIZUMAB PEGOL [Suspect]
     Active Substance: CERTOLIZUMAB PEGOL
     Route: 065
  196. CERTOLIZUMAB PEGOL [Suspect]
     Active Substance: CERTOLIZUMAB PEGOL
     Indication: Product used for unknown indication
     Route: 065
  197. CETIRIZINE [Suspect]
     Active Substance: CETIRIZINE HYDROCHLORIDE
     Route: 048
  198. CETIRIZINE [Suspect]
     Active Substance: CETIRIZINE HYDROCHLORIDE
     Route: 065
  199. CETIRIZINE [Suspect]
     Active Substance: CETIRIZINE HYDROCHLORIDE
     Route: 065
  200. CETIRIZINE [Suspect]
     Active Substance: CETIRIZINE HYDROCHLORIDE
     Route: 048
  201. CETIRIZINE [Suspect]
     Active Substance: CETIRIZINE HYDROCHLORIDE
     Route: 048
  202. CETIRIZINE [Suspect]
     Active Substance: CETIRIZINE HYDROCHLORIDE
     Indication: Rheumatoid arthritis
     Route: 065
  203. CETIRIZINE [Suspect]
     Active Substance: CETIRIZINE HYDROCHLORIDE
     Route: 065
  204. CETIRIZINE [Suspect]
     Active Substance: CETIRIZINE HYDROCHLORIDE
     Route: 065
  205. CETIRIZINE [Suspect]
     Active Substance: CETIRIZINE HYDROCHLORIDE
     Route: 065
  206. CETIRIZINE [Suspect]
     Active Substance: CETIRIZINE HYDROCHLORIDE
     Route: 016
  207. CETIRIZINE HYDROCHLORIDE [Suspect]
     Active Substance: CETIRIZINE HYDROCHLORIDE
     Route: 048
  208. CETIRIZINE HYDROCHLORIDE [Suspect]
     Active Substance: CETIRIZINE HYDROCHLORIDE
     Indication: Rheumatoid arthritis
     Route: 065
  209. CETIRIZINE HYDROCHLORIDE [Suspect]
     Active Substance: CETIRIZINE HYDROCHLORIDE
     Route: 065
  210. CETIRIZINE HYDROCHLORIDE [Suspect]
     Active Substance: CETIRIZINE HYDROCHLORIDE
     Indication: Rheumatoid arthritis
     Route: 048
  211. CETIRIZINE HYDROCHLORIDE [Suspect]
     Active Substance: CETIRIZINE HYDROCHLORIDE
     Route: 048
  212. CETIRIZINE HYDROCHLORIDE [Suspect]
     Active Substance: CETIRIZINE HYDROCHLORIDE
     Route: 048
  213. CETIRIZINE HYDROCHLORIDE [Suspect]
     Active Substance: CETIRIZINE HYDROCHLORIDE
     Route: 048
  214. CETIRIZINE HYDROCHLORIDE [Suspect]
     Active Substance: CETIRIZINE HYDROCHLORIDE
     Route: 065
  215. CETIRIZINE HYDROCHLORIDE [Suspect]
     Active Substance: CETIRIZINE HYDROCHLORIDE
     Route: 065
  216. CETIRIZINE HYDROCHLORIDE [Suspect]
     Active Substance: CETIRIZINE HYDROCHLORIDE
     Route: 065
  217. CETIRIZINE HYDROCHLORIDE [Suspect]
     Active Substance: CETIRIZINE HYDROCHLORIDE
     Route: 065
  218. CETIRIZINE HYDROCHLORIDE [Suspect]
     Active Substance: CETIRIZINE HYDROCHLORIDE
     Route: 065
  219. CETIRIZINE HYDROCHLORIDE [Suspect]
     Active Substance: CETIRIZINE HYDROCHLORIDE
     Route: 065
  220. CETIRIZINE HYDROCHLORIDE [Suspect]
     Active Substance: CETIRIZINE HYDROCHLORIDE
     Route: 065
  221. CETIRIZINE HYDROCHLORIDE [Suspect]
     Active Substance: CETIRIZINE HYDROCHLORIDE
     Route: 065
  222. CETIRIZINE HYDROCHLORIDE [Suspect]
     Active Substance: CETIRIZINE HYDROCHLORIDE
     Route: 065
  223. CETIRIZINE HYDROCHLORIDE [Suspect]
     Active Substance: CETIRIZINE HYDROCHLORIDE
     Route: 065
  224. CETIRIZINE HYDROCHLORIDE [Suspect]
     Active Substance: CETIRIZINE HYDROCHLORIDE
     Indication: Product used for unknown indication
     Route: 065
  225. CETIRIZINE HYDROCHLORIDE [Suspect]
     Active Substance: CETIRIZINE HYDROCHLORIDE
     Route: 065
  226. CETIRIZINE HYDROCHLORIDE [Suspect]
     Active Substance: CETIRIZINE HYDROCHLORIDE
     Indication: Product used for unknown indication
     Route: 048
  227. CETIRIZINE HYDROCHLORIDE [Suspect]
     Active Substance: CETIRIZINE HYDROCHLORIDE
     Route: 048
  228. CETIRIZINE HYDROCHLORIDE [Suspect]
     Active Substance: CETIRIZINE HYDROCHLORIDE
     Route: 048
  229. CETIRIZINE HYDROCHLORIDE [Suspect]
     Active Substance: CETIRIZINE HYDROCHLORIDE
     Route: 048
  230. CETIRIZINE HYDROCHLORIDE [Suspect]
     Active Substance: CETIRIZINE HYDROCHLORIDE
     Route: 048
  231. CETIRIZINE HYDROCHLORIDE [Suspect]
     Active Substance: CETIRIZINE HYDROCHLORIDE
     Route: 048
  232. CETIRIZINE HYDROCHLORIDE [Suspect]
     Active Substance: CETIRIZINE HYDROCHLORIDE
     Route: 048
  233. CETIRIZINE HYDROCHLORIDE [Suspect]
     Active Substance: CETIRIZINE HYDROCHLORIDE
     Indication: Product used for unknown indication
     Route: 065
  234. CETIRIZINE HYDROCHLORIDE [Suspect]
     Active Substance: CETIRIZINE HYDROCHLORIDE
     Route: 065
  235. CETIRIZINE HYDROCHLORIDE [Suspect]
     Active Substance: CETIRIZINE HYDROCHLORIDE
     Route: 065
  236. CETIRIZINE HYDROCHLORIDE [Suspect]
     Active Substance: CETIRIZINE HYDROCHLORIDE
     Route: 065
  237. CETIRIZINE HYDROCHLORIDE [Suspect]
     Active Substance: CETIRIZINE HYDROCHLORIDE
     Route: 065
  238. CETIRIZINE HYDROCHLORIDE [Suspect]
     Active Substance: CETIRIZINE HYDROCHLORIDE
     Route: 065
  239. CETIRIZINE HYDROCHLORIDE [Suspect]
     Active Substance: CETIRIZINE HYDROCHLORIDE
     Route: 065
  240. CETIRIZINE HYDROCHLORIDE [Suspect]
     Active Substance: CETIRIZINE HYDROCHLORIDE
     Route: 065
  241. CETIRIZINE HYDROCHLORIDE [Suspect]
     Active Substance: CETIRIZINE HYDROCHLORIDE
     Route: 065
  242. CETIRIZINE HYDROCHLORIDE [Suspect]
     Active Substance: CETIRIZINE HYDROCHLORIDE
     Route: 065
  243. CETIRIZINE HYDROCHLORIDE [Suspect]
     Active Substance: CETIRIZINE HYDROCHLORIDE
     Route: 065
  244. CETIRIZINE HYDROCHLORIDE [Suspect]
     Active Substance: CETIRIZINE HYDROCHLORIDE
     Indication: Product used for unknown indication
     Route: 048
  245. CETIRIZINE HYDROCHLORIDE [Suspect]
     Active Substance: CETIRIZINE HYDROCHLORIDE
     Route: 065
  246. CETIRIZINE HYDROCHLORIDE [Suspect]
     Active Substance: CETIRIZINE HYDROCHLORIDE
     Route: 065
  247. CETIRIZINE HYDROCHLORIDE [Suspect]
     Active Substance: CETIRIZINE HYDROCHLORIDE
     Route: 048
  248. CETIRIZINE HYDROCHLORIDE [Suspect]
     Active Substance: CETIRIZINE HYDROCHLORIDE
     Route: 016
  249. CETIRIZINE HYDROCHLORIDE [Suspect]
     Active Substance: CETIRIZINE HYDROCHLORIDE
     Indication: Rheumatoid arthritis
     Route: 065
  250. CETIRIZINE HYDROCHLORIDE [Suspect]
     Active Substance: CETIRIZINE HYDROCHLORIDE
     Route: 065
  251. CETIRIZINE HYDROCHLORIDE [Suspect]
     Active Substance: CETIRIZINE HYDROCHLORIDE
     Route: 065
  252. CETIRIZINE HYDROCHLORIDE [Suspect]
     Active Substance: CETIRIZINE HYDROCHLORIDE
     Route: 065
  253. CETIRIZINE HYDROCHLORIDE [Suspect]
     Active Substance: CETIRIZINE HYDROCHLORIDE
     Route: 065
  254. CETIRIZINE HYDROCHLORIDE [Suspect]
     Active Substance: CETIRIZINE HYDROCHLORIDE
     Route: 065
  255. CETIRIZINE HYDROCHLORIDE [Suspect]
     Active Substance: CETIRIZINE HYDROCHLORIDE
     Route: 065
  256. CETIRIZINE HYDROCHLORIDE [Suspect]
     Active Substance: CETIRIZINE HYDROCHLORIDE
     Route: 065
  257. CETIRIZINE HYDROCHLORIDE [Suspect]
     Active Substance: CETIRIZINE HYDROCHLORIDE
     Route: 065
  258. CETIRIZINE HYDROCHLORIDE [Suspect]
     Active Substance: CETIRIZINE HYDROCHLORIDE
     Indication: Product used for unknown indication
     Route: 005
  259. CETIRIZINE HYDROCHLORIDE [Suspect]
     Active Substance: CETIRIZINE HYDROCHLORIDE
     Indication: Rheumatoid arthritis
     Route: 065
  260. CETIRIZINE HYDROCHLORIDE [Suspect]
     Active Substance: CETIRIZINE HYDROCHLORIDE
     Route: 065
  261. CETIRIZINE HYDROCHLORIDE [Suspect]
     Active Substance: CETIRIZINE HYDROCHLORIDE
     Indication: Rheumatoid arthritis
     Route: 065
  262. CHLORHEXIDINE GLUCONATE [Suspect]
     Active Substance: CHLORHEXIDINE GLUCONATE
     Route: 061
  263. CHLORHEXIDINE GLUCONATE [Suspect]
     Active Substance: CHLORHEXIDINE GLUCONATE
     Indication: Product used for unknown indication
     Route: 065
  264. CHLORHEXIDINE GLUCONATE [Suspect]
     Active Substance: CHLORHEXIDINE GLUCONATE
     Route: 065
  265. CHLORHEXIDINE GLUCONATE [Suspect]
     Active Substance: CHLORHEXIDINE GLUCONATE
     Route: 065
  266. CHOLECALCIFEROL [Suspect]
     Active Substance: CHOLECALCIFEROL
     Indication: Product used for unknown indication
     Route: 065
  267. CHOLECALCIFEROL [Suspect]
     Active Substance: CHOLECALCIFEROL
     Route: 065
  268. CIMZIA [Suspect]
     Active Substance: CERTOLIZUMAB PEGOL
     Route: 058
  269. CIMZIA [Suspect]
     Active Substance: CERTOLIZUMAB PEGOL
     Route: 058
  270. CIMZIA [Suspect]
     Active Substance: CERTOLIZUMAB PEGOL
     Route: 058
  271. CIMZIA [Suspect]
     Active Substance: CERTOLIZUMAB PEGOL
     Route: 058
  272. CIMZIA [Suspect]
     Active Substance: CERTOLIZUMAB PEGOL
     Route: 058
  273. CIMZIA [Suspect]
     Active Substance: CERTOLIZUMAB PEGOL
     Route: 058
  274. CIMZIA [Suspect]
     Active Substance: CERTOLIZUMAB PEGOL
     Route: 058
  275. CIMZIA [Suspect]
     Active Substance: CERTOLIZUMAB PEGOL
     Route: 005
  276. CIMZIA [Suspect]
     Active Substance: CERTOLIZUMAB PEGOL
     Route: 005
  277. CIMZIA [Suspect]
     Active Substance: CERTOLIZUMAB PEGOL
     Indication: Rheumatoid arthritis
     Route: 065
  278. CIMZIA [Suspect]
     Active Substance: CERTOLIZUMAB PEGOL
     Route: 065
  279. CIMZIA [Suspect]
     Active Substance: CERTOLIZUMAB PEGOL
     Route: 065
  280. CIMZIA [Suspect]
     Active Substance: CERTOLIZUMAB PEGOL
     Route: 065
  281. CIMZIA [Suspect]
     Active Substance: CERTOLIZUMAB PEGOL
     Route: 065
  282. CIMZIA [Suspect]
     Active Substance: CERTOLIZUMAB PEGOL
     Route: 065
  283. CORTISONE ACETATE [Suspect]
     Active Substance: CORTISONE ACETATE
     Route: 048
  284. CORTISONE ACETATE [Suspect]
     Active Substance: CORTISONE ACETATE
     Route: 048
  285. CORTISONE ACETATE [Suspect]
     Active Substance: CORTISONE ACETATE
     Route: 048
  286. CORTISONE ACETATE [Suspect]
     Active Substance: CORTISONE ACETATE
     Route: 048
  287. CORTISONE ACETATE [Suspect]
     Active Substance: CORTISONE ACETATE
     Route: 061
  288. CORTISONE ACETATE [Suspect]
     Active Substance: CORTISONE ACETATE
     Route: 065
  289. CORTISONE ACETATE [Suspect]
     Active Substance: CORTISONE ACETATE
     Route: 065
  290. CORTISONE ACETATE [Suspect]
     Active Substance: CORTISONE ACETATE
     Route: 065
  291. CORTISONE ACETATE [Suspect]
     Active Substance: CORTISONE ACETATE
     Route: 065
  292. CORTISONE ACETATE [Suspect]
     Active Substance: CORTISONE ACETATE
     Route: 065
  293. CORTISONE ACETATE [Suspect]
     Active Substance: CORTISONE ACETATE
     Route: 065
  294. CORTISONE ACETATE [Suspect]
     Active Substance: CORTISONE ACETATE
     Route: 061
  295. CORTISONE ACETATE [Suspect]
     Active Substance: CORTISONE ACETATE
     Indication: Rheumatoid arthritis
     Route: 065
  296. CORTISONE ACETATE [Suspect]
     Active Substance: CORTISONE ACETATE
     Route: 065
  297. CORTISONE ACETATE [Suspect]
     Active Substance: CORTISONE ACETATE
     Route: 065
  298. CORTISONE ACETATE [Suspect]
     Active Substance: CORTISONE ACETATE
     Route: 065
  299. CORTISONE ACETATE [Suspect]
     Active Substance: CORTISONE ACETATE
     Route: 065
  300. COSENTYX [Suspect]
     Active Substance: SECUKINUMAB
     Route: 005
  301. COSENTYX [Suspect]
     Active Substance: SECUKINUMAB
     Route: 005
  302. COSENTYX [Suspect]
     Active Substance: SECUKINUMAB
     Indication: Psoriatic arthropathy
     Route: 065
  303. COSENTYX [Suspect]
     Active Substance: SECUKINUMAB
     Indication: Rheumatoid arthritis
     Route: 065
  304. COSENTYX [Suspect]
     Active Substance: SECUKINUMAB
     Route: 065
  305. COSENTYX [Suspect]
     Active Substance: SECUKINUMAB
     Route: 065
  306. COSENTYX [Suspect]
     Active Substance: SECUKINUMAB
     Route: 065
  307. COSENTYX [Suspect]
     Active Substance: SECUKINUMAB
     Route: 065
  308. COSENTYX [Suspect]
     Active Substance: SECUKINUMAB
     Route: 065
  309. DESOXIMETASONE [Suspect]
     Active Substance: DESOXIMETASONE
     Route: 048
  310. DESOXIMETASONE [Suspect]
     Active Substance: DESOXIMETASONE
     Route: 065
  311. DESOXIMETASONE [Suspect]
     Active Substance: DESOXIMETASONE
     Route: 048
  312. DESOXIMETASONE [Suspect]
     Active Substance: DESOXIMETASONE
     Route: 048
  313. DESOXIMETASONE [Suspect]
     Active Substance: DESOXIMETASONE
     Route: 048
  314. DESOXIMETASONE [Suspect]
     Active Substance: DESOXIMETASONE
     Route: 048
  315. DESOXIMETASONE [Suspect]
     Active Substance: DESOXIMETASONE
     Route: 048
  316. DESOXIMETASONE [Suspect]
     Active Substance: DESOXIMETASONE
     Route: 048
  317. DESOXIMETASONE [Suspect]
     Active Substance: DESOXIMETASONE
     Route: 048
  318. DESOXIMETASONE [Suspect]
     Active Substance: DESOXIMETASONE
     Route: 048
  319. DESOXIMETASONE [Suspect]
     Active Substance: DESOXIMETASONE
     Route: 048
  320. DESOXIMETASONE [Suspect]
     Active Substance: DESOXIMETASONE
     Route: 048
  321. DESOXIMETASONE [Suspect]
     Active Substance: DESOXIMETASONE
     Route: 048
  322. DESOXIMETASONE [Suspect]
     Active Substance: DESOXIMETASONE
     Route: 048
  323. DESOXIMETASONE [Suspect]
     Active Substance: DESOXIMETASONE
     Route: 065
  324. DESOXIMETASONE [Suspect]
     Active Substance: DESOXIMETASONE
     Route: 065
  325. DESOXIMETASONE [Suspect]
     Active Substance: DESOXIMETASONE
     Route: 065
  326. DESOXIMETASONE [Suspect]
     Active Substance: DESOXIMETASONE
     Route: 065
  327. DESOXIMETASONE [Suspect]
     Active Substance: DESOXIMETASONE
     Route: 065
  328. DESOXIMETASONE [Suspect]
     Active Substance: DESOXIMETASONE
     Route: 065
  329. DESOXIMETASONE [Suspect]
     Active Substance: DESOXIMETASONE
     Route: 065
  330. DESOXIMETASONE [Suspect]
     Active Substance: DESOXIMETASONE
     Route: 003
  331. DESOXIMETASONE [Suspect]
     Active Substance: DESOXIMETASONE
     Indication: Product used for unknown indication
     Route: 048
  332. DESOXIMETASONE [Suspect]
     Active Substance: DESOXIMETASONE
     Route: 048
  333. DESOXIMETASONE [Suspect]
     Active Substance: DESOXIMETASONE
     Route: 058
  334. DESOXIMETASONE [Suspect]
     Active Substance: DESOXIMETASONE
     Route: 058
  335. DESOXIMETASONE [Suspect]
     Active Substance: DESOXIMETASONE
     Route: 058
  336. DESOXIMETASONE [Suspect]
     Active Substance: DESOXIMETASONE
     Indication: Product used for unknown indication
     Route: 048
  337. DESOXIMETASONE [Suspect]
     Active Substance: DESOXIMETASONE
     Route: 048
  338. DESOXIMETASONE [Suspect]
     Active Substance: DESOXIMETASONE
     Indication: Rheumatoid arthritis
     Route: 065
  339. DESOXIMETASONE [Suspect]
     Active Substance: DESOXIMETASONE
     Route: 003
  340. DESOXIMETASONE [Suspect]
     Active Substance: DESOXIMETASONE
     Route: 003
  341. DESOXIMETASONE [Suspect]
     Active Substance: DESOXIMETASONE
     Route: 003
  342. DESOXIMETASONE [Suspect]
     Active Substance: DESOXIMETASONE
     Route: 003
  343. DESOXIMETASONE [Suspect]
     Active Substance: DESOXIMETASONE
     Route: 048
  344. DESOXIMETASONE [Suspect]
     Active Substance: DESOXIMETASONE
     Route: 048
  345. DESOXIMETASONE [Suspect]
     Active Substance: DESOXIMETASONE
     Route: 048
  346. DESOXIMETASONE [Suspect]
     Active Substance: DESOXIMETASONE
     Route: 048
  347. DESOXIMETASONE [Suspect]
     Active Substance: DESOXIMETASONE
     Route: 048
  348. DESOXIMETASONE [Suspect]
     Active Substance: DESOXIMETASONE
     Route: 048
  349. DESOXIMETASONE [Suspect]
     Active Substance: DESOXIMETASONE
     Route: 048
  350. DESOXIMETASONE [Suspect]
     Active Substance: DESOXIMETASONE
     Route: 048
  351. DESOXIMETASONE [Suspect]
     Active Substance: DESOXIMETASONE
     Route: 048
  352. DESOXIMETASONE [Suspect]
     Active Substance: DESOXIMETASONE
     Route: 048
  353. DESOXIMETASONE [Suspect]
     Active Substance: DESOXIMETASONE
     Route: 048
  354. DESOXIMETASONE [Suspect]
     Active Substance: DESOXIMETASONE
     Route: 048
  355. DESOXIMETASONE [Suspect]
     Active Substance: DESOXIMETASONE
     Route: 048
  356. DESOXIMETASONE [Suspect]
     Active Substance: DESOXIMETASONE
     Route: 058
  357. DESOXIMETASONE [Suspect]
     Active Substance: DESOXIMETASONE
     Route: 058
  358. DESOXIMETASONE [Suspect]
     Active Substance: DESOXIMETASONE
     Route: 058
  359. DESOXIMETASONE [Suspect]
     Active Substance: DESOXIMETASONE
     Route: 058
  360. DESOXIMETASONE [Suspect]
     Active Substance: DESOXIMETASONE
     Route: 058
  361. DESOXIMETASONE [Suspect]
     Active Substance: DESOXIMETASONE
     Route: 058
  362. DESOXIMETASONE [Suspect]
     Active Substance: DESOXIMETASONE
     Route: 058
  363. DESOXIMETASONE [Suspect]
     Active Substance: DESOXIMETASONE
     Route: 058
  364. DESOXIMETASONE [Suspect]
     Active Substance: DESOXIMETASONE
     Route: 058
  365. DESOXIMETASONE [Suspect]
     Active Substance: DESOXIMETASONE
     Indication: Rheumatoid arthritis
     Route: 065
  366. DESOXIMETASONE [Suspect]
     Active Substance: DESOXIMETASONE
     Route: 065
  367. DESOXIMETASONE [Suspect]
     Active Substance: DESOXIMETASONE
     Route: 065
  368. DESOXIMETASONE [Suspect]
     Active Substance: DESOXIMETASONE
     Route: 065
  369. DESOXIMETASONE [Suspect]
     Active Substance: DESOXIMETASONE
     Route: 065
  370. DESOXIMETASONE [Suspect]
     Active Substance: DESOXIMETASONE
     Indication: Rheumatoid arthritis
     Route: 065
  371. DICLOFENAC [Suspect]
     Active Substance: DICLOFENAC
     Indication: Product used for unknown indication
     Route: 065
  372. DICLOFENAC DIETHYLAMINE [Suspect]
     Active Substance: DICLOFENAC DIETHYLAMINE
     Route: 065
  373. DICLOFENAC DIETHYLAMINE [Suspect]
     Active Substance: DICLOFENAC DIETHYLAMINE
     Indication: Product used for unknown indication
     Route: 065
  374. DICLOFENAC POTASSIUM [Suspect]
     Active Substance: DICLOFENAC POTASSIUM
     Route: 065
  375. DICLOFENAC POTASSIUM [Suspect]
     Active Substance: DICLOFENAC POTASSIUM
     Route: 065
  376. DICLOFENAC POTASSIUM [Suspect]
     Active Substance: DICLOFENAC POTASSIUM
     Route: 065
  377. DICLOFENAC POTASSIUM [Suspect]
     Active Substance: DICLOFENAC POTASSIUM
     Indication: Product used for unknown indication
     Route: 065
  378. DICLOFENAC SODIUM [Suspect]
     Active Substance: DICLOFENAC SODIUM
     Indication: Product used for unknown indication
     Route: 058
  379. DICLOFENAC SODIUM [Suspect]
     Active Substance: DICLOFENAC SODIUM
     Route: 065
  380. DICLOFENAC SODIUM [Suspect]
     Active Substance: DICLOFENAC SODIUM
     Route: 065
  381. DICLOFENAC SODIUM [Suspect]
     Active Substance: DICLOFENAC SODIUM
     Route: 065
  382. DICLOFENAC SODIUM [Suspect]
     Active Substance: DICLOFENAC SODIUM
     Route: 058
  383. DICLOFENAC SODIUM [Suspect]
     Active Substance: DICLOFENAC SODIUM
     Route: 058
  384. DICLOFENAC SODIUM [Suspect]
     Active Substance: DICLOFENAC SODIUM
     Route: 065
  385. DICLOFENAC SODIUM [Suspect]
     Active Substance: DICLOFENAC SODIUM
     Route: 065
  386. DICLOFENAC SODIUM [Suspect]
     Active Substance: DICLOFENAC SODIUM
     Route: 065
  387. DICLOFENAC SODIUM [Suspect]
     Active Substance: DICLOFENAC SODIUM
     Route: 065
  388. DICLOFENAC SODIUM [Suspect]
     Active Substance: DICLOFENAC SODIUM
     Route: 065
  389. DOMPERIDONE MALEATE [Suspect]
     Active Substance: DOMPERIDONE MALEATE
     Indication: Product used for unknown indication
     Route: 065
  390. DOMPERIDONE MALEATE [Suspect]
     Active Substance: DOMPERIDONE MALEATE
     Route: 065
  391. DOMPERIDONE MALEATE [Suspect]
     Active Substance: DOMPERIDONE MALEATE
     Route: 065
  392. ENBREL [Suspect]
     Active Substance: ETANERCEPT
     Route: 065
  393. ENBREL [Suspect]
     Active Substance: ETANERCEPT
     Route: 065
  394. ENBREL [Suspect]
     Active Substance: ETANERCEPT
     Route: 065
  395. ENBREL [Suspect]
     Active Substance: ETANERCEPT
     Route: 058
  396. ENBREL [Suspect]
     Active Substance: ETANERCEPT
     Route: 058
  397. ENBREL [Suspect]
     Active Substance: ETANERCEPT
     Route: 058
  398. ENBREL [Suspect]
     Active Substance: ETANERCEPT
     Route: 065
  399. ENBREL [Suspect]
     Active Substance: ETANERCEPT
     Route: 058
  400. ENBREL [Suspect]
     Active Substance: ETANERCEPT
     Route: 058
  401. ENBREL [Suspect]
     Active Substance: ETANERCEPT
     Route: 058
  402. ENBREL [Suspect]
     Active Substance: ETANERCEPT
     Route: 058
  403. ENBREL [Suspect]
     Active Substance: ETANERCEPT
     Route: 058
  404. ENBREL [Suspect]
     Active Substance: ETANERCEPT
     Route: 065
  405. ENBREL [Suspect]
     Active Substance: ETANERCEPT
     Route: 058
  406. ENBREL [Suspect]
     Active Substance: ETANERCEPT
     Route: 058
  407. ENBREL [Suspect]
     Active Substance: ETANERCEPT
     Route: 058
  408. ENBREL [Suspect]
     Active Substance: ETANERCEPT
     Route: 058
  409. ENBREL [Suspect]
     Active Substance: ETANERCEPT
     Indication: Rheumatoid arthritis
     Route: 065
  410. ENBREL [Suspect]
     Active Substance: ETANERCEPT
     Route: 065
  411. ENBREL [Suspect]
     Active Substance: ETANERCEPT
     Route: 065
  412. ENBREL [Suspect]
     Active Substance: ETANERCEPT
     Route: 065
  413. ENBREL [Suspect]
     Active Substance: ETANERCEPT
     Route: 065
  414. ENBREL [Suspect]
     Active Substance: ETANERCEPT
     Route: 065
  415. ERELZI [Suspect]
     Active Substance: ETANERCEPT-SZZS
     Indication: Product used for unknown indication
     Route: 065
  416. ERELZI [Suspect]
     Active Substance: ETANERCEPT-SZZS
     Route: 065
  417. ERELZI [Suspect]
     Active Substance: ETANERCEPT-SZZS
     Route: 065
  418. ERELZI [Suspect]
     Active Substance: ETANERCEPT-SZZS
     Route: 058
  419. ERELZI [Suspect]
     Active Substance: ETANERCEPT-SZZS
     Indication: Product used for unknown indication
     Route: 065
  420. ERELZI [Suspect]
     Active Substance: ETANERCEPT-SZZS
     Indication: Rheumatoid arthritis
     Route: 065
  421. ERELZI [Suspect]
     Active Substance: ETANERCEPT-SZZS
     Indication: Rheumatoid arthritis
     Route: 058
  422. ERGOCALCIFEROL [Suspect]
     Active Substance: ERGOCALCIFEROL
     Route: 065
  423. ERGOCALCIFEROL [Suspect]
     Active Substance: ERGOCALCIFEROL
     Indication: Product used for unknown indication
     Route: 065
  424. FLUMETHASONE [Suspect]
     Active Substance: FLUMETHASONE
     Indication: Product used for unknown indication
     Route: 065
  425. FLUMETHASONE [Suspect]
     Active Substance: FLUMETHASONE
     Route: 065
  426. FLUMETHASONE PIVALATE [Suspect]
     Active Substance: FLUMETHASONE PIVALATE
     Route: 048
  427. FLUMETHASONE PIVALATE [Suspect]
     Active Substance: FLUMETHASONE PIVALATE
     Route: 065
  428. FLUMETHASONE PIVALATE [Suspect]
     Active Substance: FLUMETHASONE PIVALATE
     Route: 048
  429. FLUMETHASONE PIVALATE [Suspect]
     Active Substance: FLUMETHASONE PIVALATE
     Route: 048
  430. FLUMETHASONE PIVALATE [Suspect]
     Active Substance: FLUMETHASONE PIVALATE
     Route: 065
  431. FLUMETHASONE PIVALATE [Suspect]
     Active Substance: FLUMETHASONE PIVALATE
     Route: 048
  432. FLUMETHASONE PIVALATE [Suspect]
     Active Substance: FLUMETHASONE PIVALATE
     Route: 065
  433. FLUMETHASONE PIVALATE [Suspect]
     Active Substance: FLUMETHASONE PIVALATE
     Route: 003
  434. FLUMETHASONE PIVALATE [Suspect]
     Active Substance: FLUMETHASONE PIVALATE
     Route: 003
  435. FLUMETHASONE PIVALATE [Suspect]
     Active Substance: FLUMETHASONE PIVALATE
     Route: 003
  436. FLUMETHASONE PIVALATE [Suspect]
     Active Substance: FLUMETHASONE PIVALATE
     Route: 048
  437. FLUMETHASONE PIVALATE [Suspect]
     Active Substance: FLUMETHASONE PIVALATE
     Route: 003
  438. FLUMETHASONE PIVALATE [Suspect]
     Active Substance: FLUMETHASONE PIVALATE
     Indication: Product used for unknown indication
     Route: 065
  439. FLUMETHASONE PIVALATE [Suspect]
     Active Substance: FLUMETHASONE PIVALATE
     Route: 065
  440. FLUMETHASONE PIVALATE [Suspect]
     Active Substance: FLUMETHASONE PIVALATE
     Route: 065
  441. FLUMETHASONE PIVALATE [Suspect]
     Active Substance: FLUMETHASONE PIVALATE
     Indication: Product used for unknown indication
     Route: 065
  442. FOLIC ACID [Suspect]
     Active Substance: FOLIC ACID
     Route: 048
  443. FOLIC ACID [Suspect]
     Active Substance: FOLIC ACID
     Route: 065
  444. FOLIC ACID [Suspect]
     Active Substance: FOLIC ACID
     Route: 058
  445. FOLIC ACID [Suspect]
     Active Substance: FOLIC ACID
     Route: 065
  446. FOLIC ACID [Suspect]
     Active Substance: FOLIC ACID
     Route: 065
  447. FOLIC ACID [Suspect]
     Active Substance: FOLIC ACID
     Route: 048
  448. FOLIC ACID [Suspect]
     Active Substance: FOLIC ACID
     Route: 048
  449. FOLIC ACID [Suspect]
     Active Substance: FOLIC ACID
     Route: 065
  450. FOLIC ACID [Suspect]
     Active Substance: FOLIC ACID
     Route: 048
  451. FOLIC ACID [Suspect]
     Active Substance: FOLIC ACID
     Route: 048
  452. FOLIC ACID [Suspect]
     Active Substance: FOLIC ACID
     Route: 065
  453. FOLIC ACID [Suspect]
     Active Substance: FOLIC ACID
     Route: 048
  454. FOLIC ACID [Suspect]
     Active Substance: FOLIC ACID
     Route: 065
  455. FOLIC ACID [Suspect]
     Active Substance: FOLIC ACID
     Route: 065
  456. FOLIC ACID [Suspect]
     Active Substance: FOLIC ACID
     Route: 065
  457. FOLIC ACID [Suspect]
     Active Substance: FOLIC ACID
     Route: 048
  458. FOLIC ACID [Suspect]
     Active Substance: FOLIC ACID
     Route: 048
  459. FOLIC ACID [Suspect]
     Active Substance: FOLIC ACID
     Route: 065
  460. FOLIC ACID [Suspect]
     Active Substance: FOLIC ACID
     Indication: Product used for unknown indication
     Route: 065
  461. FOLIC ACID [Suspect]
     Active Substance: FOLIC ACID
     Route: 065
  462. FOSAMAX [Suspect]
     Active Substance: ALENDRONATE SODIUM
     Route: 005
  463. FOSAMAX [Suspect]
     Active Substance: ALENDRONATE SODIUM
     Route: 005
  464. FOSAMAX [Suspect]
     Active Substance: ALENDRONATE SODIUM
     Route: 016
  465. FOSAMAX [Suspect]
     Active Substance: ALENDRONATE SODIUM
     Route: 016
  466. FOSAMAX [Suspect]
     Active Substance: ALENDRONATE SODIUM
     Route: 048
  467. FOSAMAX [Suspect]
     Active Substance: ALENDRONATE SODIUM
     Route: 048
  468. FOSAMAX [Suspect]
     Active Substance: ALENDRONATE SODIUM
     Route: 048
  469. FOSAMAX [Suspect]
     Active Substance: ALENDRONATE SODIUM
     Route: 058
  470. FOSAMAX [Suspect]
     Active Substance: ALENDRONATE SODIUM
     Route: 058
  471. FOSAMAX [Suspect]
     Active Substance: ALENDRONATE SODIUM
     Route: 058
  472. FOSAMAX [Suspect]
     Active Substance: ALENDRONATE SODIUM
     Indication: Product used for unknown indication
     Route: 065
  473. FOSAMAX [Suspect]
     Active Substance: ALENDRONATE SODIUM
     Route: 065
  474. FOSAMAX [Suspect]
     Active Substance: ALENDRONATE SODIUM
     Route: 065
  475. GOLD [Suspect]
     Active Substance: GOLD
     Route: 065
  476. GOLD [Suspect]
     Active Substance: GOLD
     Route: 065
  477. GOLD [Suspect]
     Active Substance: GOLD
     Indication: Product used for unknown indication
     Route: 065
  478. HAIR KERATIN AMINO ACIDS GOLD COMPLEX [Suspect]
     Active Substance: HAIR KERATIN AMINO ACIDS GOLD COMPLEX
     Indication: Product used for unknown indication
     Route: 065
  479. HAIR KERATIN AMINO ACIDS GOLD COMPLEX [Suspect]
     Active Substance: HAIR KERATIN AMINO ACIDS GOLD COMPLEX
     Route: 065
  480. GOLD SODIUM THIOMALATE [Suspect]
     Active Substance: GOLD SODIUM THIOMALATE
     Indication: Product used for unknown indication
     Route: 065
  481. GOLD SODIUM THIOMALATE [Suspect]
     Active Substance: GOLD SODIUM THIOMALATE
     Route: 065
  482. GOLD SODIUM THIOMALATE [Suspect]
     Active Substance: GOLD SODIUM THIOMALATE
     Route: 065
  483. GOLIMUMAB [Suspect]
     Active Substance: GOLIMUMAB
     Indication: Rheumatoid arthritis
     Route: 058
  484. GOLIMUMAB [Suspect]
     Active Substance: GOLIMUMAB
     Route: 058
  485. GOLIMUMAB [Suspect]
     Active Substance: GOLIMUMAB
     Route: 058
  486. GOLIMUMAB [Suspect]
     Active Substance: GOLIMUMAB
     Route: 058
  487. GOLIMUMAB [Suspect]
     Active Substance: GOLIMUMAB
     Route: 058
  488. GOLIMUMAB [Suspect]
     Active Substance: GOLIMUMAB
     Indication: Prostatic specific antigen
     Route: 065
  489. GOLIMUMAB [Suspect]
     Active Substance: GOLIMUMAB
     Route: 065
  490. GOLIMUMAB [Suspect]
     Active Substance: GOLIMUMAB
     Route: 065
  491. GOLIMUMAB [Suspect]
     Active Substance: GOLIMUMAB
     Route: 065
  492. GOLIMUMAB [Suspect]
     Active Substance: GOLIMUMAB
     Route: 065
  493. GOLIMUMAB [Suspect]
     Active Substance: GOLIMUMAB
     Route: 065
  494. GOLIMUMAB [Suspect]
     Active Substance: GOLIMUMAB
     Route: 065
  495. HUMIRA [Suspect]
     Active Substance: ADALIMUMAB
     Route: 058
  496. HUMIRA [Suspect]
     Active Substance: ADALIMUMAB
     Route: 058
  497. HUMIRA [Suspect]
     Active Substance: ADALIMUMAB
     Route: 058
  498. HUMIRA [Suspect]
     Active Substance: ADALIMUMAB
     Route: 058
  499. HUMIRA [Suspect]
     Active Substance: ADALIMUMAB
     Route: 058
  500. HUMIRA [Suspect]
     Active Substance: ADALIMUMAB
     Route: 058
  501. HUMIRA [Suspect]
     Active Substance: ADALIMUMAB
     Route: 058
  502. HUMIRA [Suspect]
     Active Substance: ADALIMUMAB
     Route: 058
  503. HUMIRA [Suspect]
     Active Substance: ADALIMUMAB
     Route: 058
  504. HUMIRA [Suspect]
     Active Substance: ADALIMUMAB
     Route: 058
  505. HUMIRA [Suspect]
     Active Substance: ADALIMUMAB
     Route: 057
  506. HUMIRA [Suspect]
     Active Substance: ADALIMUMAB
     Route: 057
  507. HUMIRA [Suspect]
     Active Substance: ADALIMUMAB
     Route: 057
  508. HUMIRA [Suspect]
     Active Substance: ADALIMUMAB
     Indication: Rheumatoid arthritis
     Route: 058
  509. HUMIRA [Suspect]
     Active Substance: ADALIMUMAB
     Route: 058
  510. HUMIRA [Suspect]
     Active Substance: ADALIMUMAB
     Route: 058
  511. HUMIRA [Suspect]
     Active Substance: ADALIMUMAB
     Route: 058
  512. HUMIRA [Suspect]
     Active Substance: ADALIMUMAB
     Route: 065
  513. HUMIRA [Suspect]
     Active Substance: ADALIMUMAB
     Route: 065
  514. HUMIRA [Suspect]
     Active Substance: ADALIMUMAB
     Route: 065
  515. HUMIRA [Suspect]
     Active Substance: ADALIMUMAB
     Route: 065
  516. HYDROCORTISONE [Suspect]
     Active Substance: HYDROCORTISONE
     Indication: Product used for unknown indication
     Route: 065
  517. HYDROCORTISONE [Suspect]
     Active Substance: HYDROCORTISONE
     Route: 065
  518. HYDROCORTISONE [Suspect]
     Active Substance: HYDROCORTISONE
     Route: 065
  519. HYDROCORTISONE PROBUTATE [Suspect]
     Active Substance: HYDROCORTISONE PROBUTATE
     Indication: Product used for unknown indication
     Route: 065
  520. HYDROCORTISONE ACETATE [Suspect]
     Active Substance: HYDROCORTISONE ACETATE
     Indication: Product used for unknown indication
     Route: 065
  521. HYDROCORTISONE BUTYRATE [Suspect]
     Active Substance: HYDROCORTISONE BUTYRATE
     Indication: Product used for unknown indication
     Route: 065
  522. HYDROXYCHLOROQUINE [Suspect]
     Active Substance: HYDROXYCHLOROQUINE
     Route: 065
  523. HYDROXYCHLOROQUINE [Suspect]
     Active Substance: HYDROXYCHLOROQUINE
     Route: 065
  524. HYDROXYCHLOROQUINE [Suspect]
     Active Substance: HYDROXYCHLOROQUINE
     Route: 065
  525. HYDROXYCHLOROQUINE [Suspect]
     Active Substance: HYDROXYCHLOROQUINE
     Route: 065
  526. HYDROXYCHLOROQUINE [Suspect]
     Active Substance: HYDROXYCHLOROQUINE
     Route: 065
  527. HYDROXYCHLOROQUINE [Suspect]
     Active Substance: HYDROXYCHLOROQUINE
     Route: 048
  528. HYDROXYCHLOROQUINE [Suspect]
     Active Substance: HYDROXYCHLOROQUINE
     Route: 065
  529. HYDROXYCHLOROQUINE [Suspect]
     Active Substance: HYDROXYCHLOROQUINE
     Route: 065
  530. HYDROXYCHLOROQUINE [Suspect]
     Active Substance: HYDROXYCHLOROQUINE
     Route: 048
  531. HYDROXYCHLOROQUINE [Suspect]
     Active Substance: HYDROXYCHLOROQUINE
     Route: 048
  532. HYDROXYCHLOROQUINE [Suspect]
     Active Substance: HYDROXYCHLOROQUINE
     Route: 048
  533. HYDROXYCHLOROQUINE [Suspect]
     Active Substance: HYDROXYCHLOROQUINE
     Route: 048
  534. HYDROXYCHLOROQUINE [Suspect]
     Active Substance: HYDROXYCHLOROQUINE
     Route: 048
  535. HYDROXYCHLOROQUINE [Suspect]
     Active Substance: HYDROXYCHLOROQUINE
     Route: 048
  536. HYDROXYCHLOROQUINE [Suspect]
     Active Substance: HYDROXYCHLOROQUINE
     Indication: Product used for unknown indication
     Route: 065
  537. HYDROXYCHLOROQUINE [Suspect]
     Active Substance: HYDROXYCHLOROQUINE
     Route: 065
  538. HYDROXYCHLOROQUINE [Suspect]
     Active Substance: HYDROXYCHLOROQUINE
     Route: 048
  539. HYDROXYCHLOROQUINE [Suspect]
     Active Substance: HYDROXYCHLOROQUINE
     Route: 048
  540. HYDROXYCHLOROQUINE [Suspect]
     Active Substance: HYDROXYCHLOROQUINE
     Route: 048
  541. HYDROXYCHLOROQUINE [Suspect]
     Active Substance: HYDROXYCHLOROQUINE
     Route: 048
  542. HYDROXYCHLOROQUINE [Suspect]
     Active Substance: HYDROXYCHLOROQUINE
     Route: 048
  543. HYDROXYCHLOROQUINE [Suspect]
     Active Substance: HYDROXYCHLOROQUINE
     Route: 065
  544. HYDROXYCHLOROQUINE [Suspect]
     Active Substance: HYDROXYCHLOROQUINE
     Route: 065
  545. HYDROXYCHLOROQUINE [Suspect]
     Active Substance: HYDROXYCHLOROQUINE
     Route: 065
  546. HYDROXYCHLOROQUINE [Suspect]
     Active Substance: HYDROXYCHLOROQUINE
     Route: 005
  547. HYDROXYCHLOROQUINE [Suspect]
     Active Substance: HYDROXYCHLOROQUINE
     Route: 016
  548. HYDROXYCHLOROQUINE [Suspect]
     Active Substance: HYDROXYCHLOROQUINE
     Route: 048
  549. HYDROXYCHLOROQUINE [Suspect]
     Active Substance: HYDROXYCHLOROQUINE
     Route: 048
  550. HYDROXYCHLOROQUINE [Suspect]
     Active Substance: HYDROXYCHLOROQUINE
     Route: 048
  551. HYDROXYCHLOROQUINE [Suspect]
     Active Substance: HYDROXYCHLOROQUINE
     Route: 048
  552. HYDROXYCHLOROQUINE [Suspect]
     Active Substance: HYDROXYCHLOROQUINE
     Route: 048
  553. HYDROXYCHLOROQUINE [Suspect]
     Active Substance: HYDROXYCHLOROQUINE
     Route: 058
  554. HYDROXYCHLOROQUINE [Suspect]
     Active Substance: HYDROXYCHLOROQUINE
     Route: 058
  555. HYDROXYCHLOROQUINE [Suspect]
     Active Substance: HYDROXYCHLOROQUINE
     Route: 065
  556. HYDROXYCHLOROQUINE [Suspect]
     Active Substance: HYDROXYCHLOROQUINE
     Route: 065
  557. HYDROXYCHLOROQUINE [Suspect]
     Active Substance: HYDROXYCHLOROQUINE
     Route: 065
  558. HYDROXYCHLOROQUINE [Suspect]
     Active Substance: HYDROXYCHLOROQUINE
     Route: 065
  559. HYDROXYCHLOROQUINE [Suspect]
     Active Substance: HYDROXYCHLOROQUINE
     Route: 065
  560. HYDROXYCHLOROQUINE [Suspect]
     Active Substance: HYDROXYCHLOROQUINE
     Route: 065
  561. HYDROXYCHLOROQUINE [Suspect]
     Active Substance: HYDROXYCHLOROQUINE
     Route: 065
  562. HYDROXYCHLOROQUINE [Suspect]
     Active Substance: HYDROXYCHLOROQUINE
     Route: 005
  563. HYDROXYCHLOROQUINE [Suspect]
     Active Substance: HYDROXYCHLOROQUINE
     Route: 005
  564. HYDROXYCHLOROQUINE [Suspect]
     Active Substance: HYDROXYCHLOROQUINE
     Route: 016
  565. HYDROXYCHLOROQUINE [Suspect]
     Active Substance: HYDROXYCHLOROQUINE
     Route: 048
  566. HYDROXYCHLOROQUINE [Suspect]
     Active Substance: HYDROXYCHLOROQUINE
     Route: 048
  567. HYDROXYCHLOROQUINE [Suspect]
     Active Substance: HYDROXYCHLOROQUINE
     Route: 058
  568. HYDROXYCHLOROQUINE [Suspect]
     Active Substance: HYDROXYCHLOROQUINE
     Indication: Product used for unknown indication
     Route: 065
  569. HYDROXYCHLOROQUINE [Suspect]
     Active Substance: HYDROXYCHLOROQUINE
     Route: 065
  570. HYDROXYCHLOROQUINE [Suspect]
     Active Substance: HYDROXYCHLOROQUINE
     Route: 065
  571. HYDROXYCHLOROQUINE [Suspect]
     Active Substance: HYDROXYCHLOROQUINE
     Route: 065
  572. HYDROXYCHLOROQUINE [Suspect]
     Active Substance: HYDROXYCHLOROQUINE
     Route: 065
  573. HYDROXYCHLOROQUINE [Suspect]
     Active Substance: HYDROXYCHLOROQUINE
     Route: 048
  574. HYDROXYCHLOROQUINE [Suspect]
     Active Substance: HYDROXYCHLOROQUINE
     Route: 048
  575. HYDROXYCHLOROQUINE [Suspect]
     Active Substance: HYDROXYCHLOROQUINE
     Route: 058
  576. HYDROXYCHLOROQUINE [Suspect]
     Active Substance: HYDROXYCHLOROQUINE
     Route: 058
  577. HYDROXYCHLOROQUINE SULFATE [Suspect]
     Active Substance: HYDROXYCHLOROQUINE SULFATE
     Route: 065
  578. HYDROXYCHLOROQUINE SULFATE [Suspect]
     Active Substance: HYDROXYCHLOROQUINE SULFATE
     Route: 065
  579. HYDROXYCHLOROQUINE SULFATE [Suspect]
     Active Substance: HYDROXYCHLOROQUINE SULFATE
     Route: 065
  580. HYDROXYCHLOROQUINE SULFATE [Suspect]
     Active Substance: HYDROXYCHLOROQUINE SULFATE
     Route: 065
  581. HYDROXYCHLOROQUINE SULFATE [Suspect]
     Active Substance: HYDROXYCHLOROQUINE SULFATE
     Route: 065
  582. HYDROXYCHLOROQUINE SULFATE [Suspect]
     Active Substance: HYDROXYCHLOROQUINE SULFATE
     Route: 065
  583. HYDROXYCHLOROQUINE SULFATE [Suspect]
     Active Substance: HYDROXYCHLOROQUINE SULFATE
     Route: 048
  584. HYDROXYCHLOROQUINE SULFATE [Suspect]
     Active Substance: HYDROXYCHLOROQUINE SULFATE
     Route: 048
  585. HYDROXYCHLOROQUINE SULFATE [Suspect]
     Active Substance: HYDROXYCHLOROQUINE SULFATE
     Route: 065
  586. HYDROXYCHLOROQUINE SULFATE [Suspect]
     Active Substance: HYDROXYCHLOROQUINE SULFATE
     Route: 065
  587. HYDROXYCHLOROQUINE SULFATE [Suspect]
     Active Substance: HYDROXYCHLOROQUINE SULFATE
     Route: 065
  588. HYDROXYCHLOROQUINE SULFATE [Suspect]
     Active Substance: HYDROXYCHLOROQUINE SULFATE
     Route: 005
  589. HYDROXYCHLOROQUINE SULFATE [Suspect]
     Active Substance: HYDROXYCHLOROQUINE SULFATE
     Indication: Rheumatoid arthritis
     Route: 048
  590. HYDROXYCHLOROQUINE SULFATE [Suspect]
     Active Substance: HYDROXYCHLOROQUINE SULFATE
     Route: 048
  591. HYDROXYCHLOROQUINE SULFATE [Suspect]
     Active Substance: HYDROXYCHLOROQUINE SULFATE
     Route: 048
  592. HYDROXYCHLOROQUINE SULFATE [Suspect]
     Active Substance: HYDROXYCHLOROQUINE SULFATE
     Route: 048
  593. HYDROXYCHLOROQUINE SULFATE [Suspect]
     Active Substance: HYDROXYCHLOROQUINE SULFATE
     Route: 065
  594. HYDROXYCHLOROQUINE SULFATE [Suspect]
     Active Substance: HYDROXYCHLOROQUINE SULFATE
     Route: 065
  595. HYDROXYCHLOROQUINE SULFATE [Suspect]
     Active Substance: HYDROXYCHLOROQUINE SULFATE
     Route: 065
  596. IMURAN [Suspect]
     Active Substance: AZATHIOPRINE
     Indication: Product used for unknown indication
     Route: 065
  597. INFLIXIMAB [Suspect]
     Active Substance: INFLIXIMAB
     Route: 040
  598. INFLIXIMAB [Suspect]
     Active Substance: INFLIXIMAB
     Route: 040
  599. INFLIXIMAB [Suspect]
     Active Substance: INFLIXIMAB
     Route: 040
  600. INFLIXIMAB [Suspect]
     Active Substance: INFLIXIMAB
     Route: 042
  601. INFLIXIMAB [Suspect]
     Active Substance: INFLIXIMAB
     Route: 065
  602. INFLIXIMAB [Suspect]
     Active Substance: INFLIXIMAB
     Route: 065
  603. INFLIXIMAB [Suspect]
     Active Substance: INFLIXIMAB
     Route: 065
  604. INFLIXIMAB [Suspect]
     Active Substance: INFLIXIMAB
     Route: 065
  605. INFLIXIMAB [Suspect]
     Active Substance: INFLIXIMAB
     Route: 040
  606. INFLIXIMAB [Suspect]
     Active Substance: INFLIXIMAB
     Route: 040
  607. INFLIXIMAB [Suspect]
     Active Substance: INFLIXIMAB
     Route: 042
  608. INFLIXIMAB [Suspect]
     Active Substance: INFLIXIMAB
     Indication: Rheumatoid arthritis
     Route: 065
  609. INFLIXIMAB [Suspect]
     Active Substance: INFLIXIMAB
     Route: 065
  610. INFLIXIMAB [Suspect]
     Active Substance: INFLIXIMAB
     Route: 065
  611. ISOPROPYL ALCOHOL [Suspect]
     Active Substance: ISOPROPYL ALCOHOL
     Indication: Product used for unknown indication
     Route: 061
  612. ISOPROPYL ALCOHOL [Suspect]
     Active Substance: ISOPROPYL ALCOHOL
     Route: 065
  613. ISOPROPYL ALCOHOL [Suspect]
     Active Substance: ISOPROPYL ALCOHOL
     Route: 065
  614. KEVZARA [Suspect]
     Active Substance: SARILUMAB
     Indication: Product used for unknown indication
     Route: 065
  615. LAMICTAL [Suspect]
     Active Substance: LAMOTRIGINE
     Route: 048
  616. LAMICTAL [Suspect]
     Active Substance: LAMOTRIGINE
     Route: 048
  617. LAMICTAL [Suspect]
     Active Substance: LAMOTRIGINE
     Route: 048
  618. LAMICTAL [Suspect]
     Active Substance: LAMOTRIGINE
     Route: 048
  619. LAMICTAL [Suspect]
     Active Substance: LAMOTRIGINE
     Route: 048
  620. LAMICTAL [Suspect]
     Active Substance: LAMOTRIGINE
     Route: 048
  621. LAMICTAL [Suspect]
     Active Substance: LAMOTRIGINE
     Route: 048
  622. LAMICTAL [Suspect]
     Active Substance: LAMOTRIGINE
     Route: 048
  623. LAMICTAL [Suspect]
     Active Substance: LAMOTRIGINE
     Route: 048
  624. LAMICTAL [Suspect]
     Active Substance: LAMOTRIGINE
     Route: 048
  625. LAMICTAL [Suspect]
     Active Substance: LAMOTRIGINE
     Route: 048
  626. LAMICTAL [Suspect]
     Active Substance: LAMOTRIGINE
     Route: 048
  627. LAMICTAL [Suspect]
     Active Substance: LAMOTRIGINE
     Route: 048
  628. LAMICTAL [Suspect]
     Active Substance: LAMOTRIGINE
     Route: 048
  629. LAMICTAL [Suspect]
     Active Substance: LAMOTRIGINE
     Route: 048
  630. LAMICTAL [Suspect]
     Active Substance: LAMOTRIGINE
     Route: 048
  631. LAMICTAL [Suspect]
     Active Substance: LAMOTRIGINE
     Route: 048
  632. LAMICTAL [Suspect]
     Active Substance: LAMOTRIGINE
     Route: 048
  633. LAMICTAL [Suspect]
     Active Substance: LAMOTRIGINE
     Indication: Product used for unknown indication
     Route: 065
  634. LEFLUNOMIDE [Suspect]
     Active Substance: LEFLUNOMIDE
     Route: 048
  635. LEFLUNOMIDE [Suspect]
     Active Substance: LEFLUNOMIDE
     Route: 048
  636. LEFLUNOMIDE [Suspect]
     Active Substance: LEFLUNOMIDE
     Route: 048
  637. LEFLUNOMIDE [Suspect]
     Active Substance: LEFLUNOMIDE
     Route: 065
  638. LEFLUNOMIDE [Suspect]
     Active Substance: LEFLUNOMIDE
     Route: 065
  639. LEFLUNOMIDE [Suspect]
     Active Substance: LEFLUNOMIDE
     Route: 065
  640. LEFLUNOMIDE [Suspect]
     Active Substance: LEFLUNOMIDE
     Indication: Rheumatoid arthritis
     Route: 065
  641. LEFLUNOMIDE [Suspect]
     Active Substance: LEFLUNOMIDE
     Route: 065
  642. LEFLUNOMIDE [Suspect]
     Active Substance: LEFLUNOMIDE
     Route: 065
  643. LEFLUNOMIDE [Suspect]
     Active Substance: LEFLUNOMIDE
     Route: 065
  644. LEFLUNOMIDE [Suspect]
     Active Substance: LEFLUNOMIDE
     Route: 065
  645. LEFLUNOMIDE [Suspect]
     Active Substance: LEFLUNOMIDE
     Route: 065
  646. LEFLUNOMIDE [Suspect]
     Active Substance: LEFLUNOMIDE
     Route: 048
  647. LEFLUNOMIDE [Suspect]
     Active Substance: LEFLUNOMIDE
     Route: 048
  648. LEFLUNOMIDE [Suspect]
     Active Substance: LEFLUNOMIDE
     Route: 048
  649. LEFLUNOMIDE [Suspect]
     Active Substance: LEFLUNOMIDE
     Indication: Product used for unknown indication
     Route: 065
  650. LEFLUNOMIDE [Suspect]
     Active Substance: LEFLUNOMIDE
     Route: 065
  651. LEFLUNOMIDE [Suspect]
     Active Substance: LEFLUNOMIDE
     Route: 065
  652. LEFLUNOMIDE [Suspect]
     Active Substance: LEFLUNOMIDE
     Route: 065
  653. MAGNESIUM CITRATE [Suspect]
     Active Substance: MAGNESIUM CITRATE
     Indication: Product used for unknown indication
     Route: 065
  654. MEGLUMINE [Suspect]
     Active Substance: MEGLUMINE
     Route: 040
  655. MEGLUMINE [Suspect]
     Active Substance: MEGLUMINE
     Route: 042
  656. MEGLUMINE [Suspect]
     Active Substance: MEGLUMINE
     Route: 042
  657. MEGLUMINE [Suspect]
     Active Substance: MEGLUMINE
     Route: 042
  658. MEGLUMINE [Suspect]
     Active Substance: MEGLUMINE
     Indication: Product used for unknown indication
     Route: 065
  659. MEGLUMINE [Suspect]
     Active Substance: MEGLUMINE
     Route: 065
  660. METFORMIN HYDROCHLORIDE [Suspect]
     Active Substance: METFORMIN HYDROCHLORIDE
     Indication: Product used for unknown indication
     Route: 065
  661. METHOTREXATE [Suspect]
     Active Substance: METHOTREXATE
     Route: 048
  662. METHOTREXATE [Suspect]
     Active Substance: METHOTREXATE
     Route: 065
  663. METHOTREXATE [Suspect]
     Active Substance: METHOTREXATE
     Route: 065
  664. METHOTREXATE [Suspect]
     Active Substance: METHOTREXATE
     Route: 058
  665. METHOTREXATE [Suspect]
     Active Substance: METHOTREXATE
     Route: 058
  666. METHOTREXATE [Suspect]
     Active Substance: METHOTREXATE
     Route: 058
  667. METHOTREXATE [Suspect]
     Active Substance: METHOTREXATE
     Route: 065
  668. METHOTREXATE [Suspect]
     Active Substance: METHOTREXATE
     Route: 048
  669. METHOTREXATE [Suspect]
     Active Substance: METHOTREXATE
     Route: 058
  670. METHOTREXATE [Suspect]
     Active Substance: METHOTREXATE
     Route: 048
  671. METHOTREXATE [Suspect]
     Active Substance: METHOTREXATE
     Route: 048
  672. METHOTREXATE [Suspect]
     Active Substance: METHOTREXATE
     Route: 058
  673. METHOTREXATE [Suspect]
     Active Substance: METHOTREXATE
     Route: 065
  674. METHOTREXATE [Suspect]
     Active Substance: METHOTREXATE
     Indication: Rheumatoid arthritis
     Route: 048
  675. METHOTREXATE [Suspect]
     Active Substance: METHOTREXATE
     Route: 048
  676. METHOTREXATE [Suspect]
     Active Substance: METHOTREXATE
     Route: 065
  677. METHOTREXATE [Suspect]
     Active Substance: METHOTREXATE
     Route: 065
  678. METHOTREXATE [Suspect]
     Active Substance: METHOTREXATE
     Route: 065
  679. METHOTREXATE [Suspect]
     Active Substance: METHOTREXATE
     Route: 013
  680. METHOTREXATE [Suspect]
     Active Substance: METHOTREXATE
     Route: 048
  681. METHOTREXATE [Suspect]
     Active Substance: METHOTREXATE
     Route: 065
  682. METHOTREXATE [Suspect]
     Active Substance: METHOTREXATE
     Route: 065
  683. METHOTREXATE [Suspect]
     Active Substance: METHOTREXATE
     Route: 013
  684. METHOTREXATE [Suspect]
     Active Substance: METHOTREXATE
     Route: 013
  685. METHOTREXATE [Suspect]
     Active Substance: METHOTREXATE
     Route: 048
  686. METHOTREXATE [Suspect]
     Active Substance: METHOTREXATE
     Route: 048
  687. METHOTREXATE [Suspect]
     Active Substance: METHOTREXATE
     Route: 065
  688. METHOTREXATE [Suspect]
     Active Substance: METHOTREXATE
     Route: 065
  689. METHOTREXATE [Suspect]
     Active Substance: METHOTREXATE
     Route: 065
  690. METHOTREXATE [Suspect]
     Active Substance: METHOTREXATE
     Route: 065
  691. METHOTREXATE [Suspect]
     Active Substance: METHOTREXATE
     Route: 065
  692. METHOTREXATE [Suspect]
     Active Substance: METHOTREXATE
     Route: 065
  693. METHOTREXATE [Suspect]
     Active Substance: METHOTREXATE
     Route: 048
  694. METHOTREXATE [Suspect]
     Active Substance: METHOTREXATE
     Route: 065
  695. METHOTREXATE [Suspect]
     Active Substance: METHOTREXATE
     Route: 013
  696. METHOTREXATE [Suspect]
     Active Substance: METHOTREXATE
     Route: 013
  697. METHOTREXATE [Suspect]
     Active Substance: METHOTREXATE
     Route: 048
  698. METHOTREXATE [Suspect]
     Active Substance: METHOTREXATE
     Route: 048
  699. METHOTREXATE [Suspect]
     Active Substance: METHOTREXATE
     Route: 058
  700. METHOTREXATE [Suspect]
     Active Substance: METHOTREXATE
     Route: 065
  701. METHOTREXATE [Suspect]
     Active Substance: METHOTREXATE
     Route: 065
  702. METHOTREXATE [Suspect]
     Active Substance: METHOTREXATE
     Route: 065
  703. METHOTREXATE [Suspect]
     Active Substance: METHOTREXATE
     Route: 065
  704. METHOTREXATE [Suspect]
     Active Substance: METHOTREXATE
     Route: 048
  705. METHOTREXATE [Suspect]
     Active Substance: METHOTREXATE
     Route: 048
  706. METHOTREXATE [Suspect]
     Active Substance: METHOTREXATE
     Route: 065
  707. METHOTREXATE [Suspect]
     Active Substance: METHOTREXATE
     Route: 065
  708. METHOTREXATE [Suspect]
     Active Substance: METHOTREXATE
     Route: 048
  709. METHOTREXATE [Suspect]
     Active Substance: METHOTREXATE
     Route: 048
  710. METHOTREXATE [Suspect]
     Active Substance: METHOTREXATE
     Route: 048
  711. METHOTREXATE [Suspect]
     Active Substance: METHOTREXATE
     Route: 048
  712. METHOTREXATE [Suspect]
     Active Substance: METHOTREXATE
     Route: 048
  713. METHOTREXATE [Suspect]
     Active Substance: METHOTREXATE
     Route: 048
  714. METHOTREXATE [Suspect]
     Active Substance: METHOTREXATE
     Route: 048
  715. METHOTREXATE [Suspect]
     Active Substance: METHOTREXATE
     Route: 048
  716. METHOTREXATE [Suspect]
     Active Substance: METHOTREXATE
     Route: 016
  717. METHOTREXATE [Suspect]
     Active Substance: METHOTREXATE
     Route: 048
  718. METHOTREXATE [Suspect]
     Active Substance: METHOTREXATE
     Route: 058
  719. METHOTREXATE [Suspect]
     Active Substance: METHOTREXATE
     Route: 016
  720. METHOTREXATE [Suspect]
     Active Substance: METHOTREXATE
     Route: 016
  721. METHOTREXATE [Suspect]
     Active Substance: METHOTREXATE
     Route: 048
  722. METHOTREXATE [Suspect]
     Active Substance: METHOTREXATE
     Route: 048
  723. METHOTREXATE [Suspect]
     Active Substance: METHOTREXATE
     Route: 048
  724. METHOTREXATE [Suspect]
     Active Substance: METHOTREXATE
     Route: 058
  725. METHOTREXATE [Suspect]
     Active Substance: METHOTREXATE
     Route: 058
  726. METHOTREXATE [Suspect]
     Active Substance: METHOTREXATE
     Route: 058
  727. METHOTREXATE [Suspect]
     Active Substance: METHOTREXATE
     Route: 058
  728. METHOTREXATE [Suspect]
     Active Substance: METHOTREXATE
     Indication: Rheumatoid arthritis
     Route: 065
  729. METHOTREXATE [Suspect]
     Active Substance: METHOTREXATE
     Route: 065
  730. METHOTREXATE [Suspect]
     Active Substance: METHOTREXATE
     Route: 065
  731. METHOTREXATE [Suspect]
     Active Substance: METHOTREXATE
     Route: 065
  732. METHOTREXATE [Suspect]
     Active Substance: METHOTREXATE
     Route: 048
  733. METHOTREXATE [Suspect]
     Active Substance: METHOTREXATE
     Route: 048
  734. METHYLPREDNISOLONE [Suspect]
     Active Substance: METHYLPREDNISOLONE
     Route: 042
  735. METHYLPREDNISOLONE [Suspect]
     Active Substance: METHYLPREDNISOLONE
     Route: 042
  736. METHYLPREDNISOLONE [Suspect]
     Active Substance: METHYLPREDNISOLONE
     Route: 042
  737. METHYLPREDNISOLONE [Suspect]
     Active Substance: METHYLPREDNISOLONE
     Route: 065
  738. METHYLPREDNISOLONE [Suspect]
     Active Substance: METHYLPREDNISOLONE
     Route: 065
  739. METHYLPREDNISOLONE [Suspect]
     Active Substance: METHYLPREDNISOLONE
     Route: 065
  740. METHYLPREDNISOLONE [Suspect]
     Active Substance: METHYLPREDNISOLONE
     Route: 042
  741. METHYLPREDNISOLONE [Suspect]
     Active Substance: METHYLPREDNISOLONE
     Route: 042
  742. METHYLPREDNISOLONE [Suspect]
     Active Substance: METHYLPREDNISOLONE
     Route: 058
  743. METHYLPREDNISOLONE [Suspect]
     Active Substance: METHYLPREDNISOLONE
     Route: 058
  744. METHYLPREDNISOLONE [Suspect]
     Active Substance: METHYLPREDNISOLONE
     Indication: Product used for unknown indication
     Route: 065
  745. METHYLPREDNISOLONE [Suspect]
     Active Substance: METHYLPREDNISOLONE
     Route: 065
  746. METHYLPREDNISOLONE [Suspect]
     Active Substance: METHYLPREDNISOLONE
     Route: 065
  747. METHYLPREDNISOLONE SODIUM SUCCINATE [Suspect]
     Active Substance: METHYLPREDNISOLONE SODIUM SUCCINATE
     Indication: Product used for unknown indication
     Route: 065
  748. METHYLPREDNISOLONE SODIUM SUCCINATE [Suspect]
     Active Substance: METHYLPREDNISOLONE SODIUM SUCCINATE
     Route: 065
  749. MINOCYCLINE [Suspect]
     Active Substance: MINOCYCLINE HYDROCHLORIDE
     Indication: Product used for unknown indication
     Route: 065
  750. MINOCYCLINE [Suspect]
     Active Substance: MINOCYCLINE HYDROCHLORIDE
     Route: 065
  751. MINOCYCLINE [Suspect]
     Active Substance: MINOCYCLINE HYDROCHLORIDE
     Route: 065
  752. MINOCYCLINE [Suspect]
     Active Substance: MINOCYCLINE HYDROCHLORIDE
     Route: 065
  753. MINOCYCLINE [Suspect]
     Active Substance: MINOCYCLINE HYDROCHLORIDE
     Route: 065
  754. MINOCYCLINE [Suspect]
     Active Substance: MINOCYCLINE HYDROCHLORIDE
     Route: 065
  755. MINOCYCLINE [Suspect]
     Active Substance: MINOCYCLINE HYDROCHLORIDE
     Route: 065
  756. MINOCYCLINE HYDROCHLORIDE [Suspect]
     Active Substance: MINOCYCLINE HYDROCHLORIDE
     Indication: Product used for unknown indication
     Route: 065
  757. MINOCYCLINE HYDROCHLORIDE [Suspect]
     Active Substance: MINOCYCLINE HYDROCHLORIDE
     Route: 065
  758. MINOCYCLINE HYDROCHLORIDE [Suspect]
     Active Substance: MINOCYCLINE HYDROCHLORIDE
     Route: 065
  759. MINOCYCLINE HYDROCHLORIDE [Suspect]
     Active Substance: MINOCYCLINE HYDROCHLORIDE
     Route: 065
  760. MYOCHRYSINE [Suspect]
     Active Substance: GOLD SODIUM THIOMALATE
     Indication: Rheumatoid arthritis
     Route: 030
  761. MYOCHRYSINE [Suspect]
     Active Substance: GOLD SODIUM THIOMALATE
     Route: 030
  762. MYOCHRYSINE [Suspect]
     Active Substance: GOLD SODIUM THIOMALATE
     Route: 030
  763. MYRBETRIQ [Suspect]
     Active Substance: MIRABEGRON
     Route: 065
  764. MYRBETRIQ [Suspect]
     Active Substance: MIRABEGRON
     Route: 065
  765. MYRBETRIQ [Suspect]
     Active Substance: MIRABEGRON
     Route: 065
  766. MYRBETRIQ [Suspect]
     Active Substance: MIRABEGRON
     Route: 065
  767. MYRBETRIQ [Suspect]
     Active Substance: MIRABEGRON
     Route: 065
  768. MYRBETRIQ [Suspect]
     Active Substance: MIRABEGRON
     Route: 065
  769. MYRBETRIQ [Suspect]
     Active Substance: MIRABEGRON
     Route: 065
  770. MYRBETRIQ [Suspect]
     Active Substance: MIRABEGRON
     Route: 065
  771. MYRBETRIQ [Suspect]
     Active Substance: MIRABEGRON
     Route: 065
  772. MYRBETRIQ [Suspect]
     Active Substance: MIRABEGRON
     Route: 065
  773. MYRBETRIQ [Suspect]
     Active Substance: MIRABEGRON
     Indication: Product used for unknown indication
     Route: 065
  774. NAPROXEN [Suspect]
     Active Substance: NAPROXEN
     Indication: Product used for unknown indication
     Route: 065
  775. NAPROXEN [Suspect]
     Active Substance: NAPROXEN
     Route: 065
  776. NAPROXEN [Suspect]
     Active Substance: NAPROXEN
     Route: 065
  777. NAPROXEN [Suspect]
     Active Substance: NAPROXEN
     Route: 065
  778. NAPROXEN [Suspect]
     Active Substance: NAPROXEN
     Route: 065
  779. NAPROXEN [Suspect]
     Active Substance: NAPROXEN
     Indication: Product used for unknown indication
     Route: 065
  780. NAPROXEN SODIUM [Suspect]
     Active Substance: NAPROXEN SODIUM
     Indication: Rheumatoid arthritis
     Route: 065
  781. NAPROXEN SODIUM [Suspect]
     Active Substance: NAPROXEN SODIUM
     Route: 065
  782. NAPROXEN SODIUM [Suspect]
     Active Substance: NAPROXEN SODIUM
     Route: 065
  783. NAPROXEN SODIUM [Suspect]
     Active Substance: NAPROXEN SODIUM
     Route: 065
  784. NICOTINAMIDE [Suspect]
     Active Substance: NIACINAMIDE
     Route: 065
  785. NICOTINAMIDE [Suspect]
     Active Substance: NIACINAMIDE
     Indication: Product used for unknown indication
     Route: 065
  786. NUCALA [Suspect]
     Active Substance: MEPOLIZUMAB
     Indication: Product used for unknown indication
     Route: 065
  787. NUCALA [Suspect]
     Active Substance: MEPOLIZUMAB
     Route: 065
  788. ORENCIA [Suspect]
     Active Substance: ABATACEPT
     Indication: Product used for unknown indication
     Route: 058
  789. ORENCIA [Suspect]
     Active Substance: ABATACEPT
     Route: 058
  790. ORENCIA [Suspect]
     Active Substance: ABATACEPT
     Route: 058
  791. ORENCIA [Suspect]
     Active Substance: ABATACEPT
     Route: 058
  792. ORENCIA [Suspect]
     Active Substance: ABATACEPT
     Route: 065
  793. ORENCIA [Suspect]
     Active Substance: ABATACEPT
     Route: 065
  794. ORENCIA [Suspect]
     Active Substance: ABATACEPT
     Route: 065
  795. ORENCIA [Suspect]
     Active Substance: ABATACEPT
     Route: 065
  796. ORENCIA [Suspect]
     Active Substance: ABATACEPT
     Route: 065
  797. ORENCIA [Suspect]
     Active Substance: ABATACEPT
     Route: 065
  798. ORENCIA [Suspect]
     Active Substance: ABATACEPT
     Route: 065
  799. ORENCIA [Suspect]
     Active Substance: ABATACEPT
     Route: 065
  800. ORENCIA [Suspect]
     Active Substance: ABATACEPT
     Route: 042
  801. ORENCIA [Suspect]
     Active Substance: ABATACEPT
     Route: 042
  802. ORENCIA [Suspect]
     Active Substance: ABATACEPT
     Route: 065
  803. ORENCIA [Suspect]
     Active Substance: ABATACEPT
     Route: 042
  804. ORENCIA [Suspect]
     Active Substance: ABATACEPT
     Route: 042
  805. ORENCIA [Suspect]
     Active Substance: ABATACEPT
     Route: 042
  806. ORENCIA [Suspect]
     Active Substance: ABATACEPT
     Route: 042
  807. ORENCIA [Suspect]
     Active Substance: ABATACEPT
     Route: 042
  808. ORENCIA [Suspect]
     Active Substance: ABATACEPT
     Route: 042
  809. ORENCIA [Suspect]
     Active Substance: ABATACEPT
     Route: 065
  810. ORENCIA [Suspect]
     Active Substance: ABATACEPT
     Route: 065
  811. ORENCIA [Suspect]
     Active Substance: ABATACEPT
     Route: 065
  812. ORENCIA [Suspect]
     Active Substance: ABATACEPT
     Route: 065
  813. ORENCIA [Suspect]
     Active Substance: ABATACEPT
     Route: 065
  814. ORENCIA [Suspect]
     Active Substance: ABATACEPT
     Route: 042
  815. ORENCIA [Suspect]
     Active Substance: ABATACEPT
     Route: 042
  816. ORENCIA [Suspect]
     Active Substance: ABATACEPT
     Route: 042
  817. ORENCIA [Suspect]
     Active Substance: ABATACEPT
     Route: 042
  818. ORENCIA [Suspect]
     Active Substance: ABATACEPT
     Route: 058
  819. ORENCIA [Suspect]
     Active Substance: ABATACEPT
     Route: 058
  820. ORENCIA [Suspect]
     Active Substance: ABATACEPT
     Route: 058
  821. ORENCIA [Suspect]
     Active Substance: ABATACEPT
     Route: 058
  822. ORENCIA [Suspect]
     Active Substance: ABATACEPT
     Route: 058
  823. ORENCIA [Suspect]
     Active Substance: ABATACEPT
     Route: 065
  824. ORENCIA [Suspect]
     Active Substance: ABATACEPT
     Route: 065
  825. ORENCIA [Suspect]
     Active Substance: ABATACEPT
     Route: 065
  826. ORENCIA [Suspect]
     Active Substance: ABATACEPT
     Route: 065
  827. ORENCIA [Suspect]
     Active Substance: ABATACEPT
     Route: 065
  828. ORENCIA [Suspect]
     Active Substance: ABATACEPT
     Route: 058
  829. ORENCIA [Suspect]
     Active Substance: ABATACEPT
     Indication: Rheumatoid arthritis
     Route: 065
  830. ORENCIA [Suspect]
     Active Substance: ABATACEPT
     Route: 065
  831. ORENCIA [Suspect]
     Active Substance: ABATACEPT
     Route: 065
  832. ORENCIA [Suspect]
     Active Substance: ABATACEPT
     Route: 065
  833. ORENCIA [Suspect]
     Active Substance: ABATACEPT
     Route: 065
  834. ORENCIA [Suspect]
     Active Substance: ABATACEPT
     Route: 065
  835. ORENCIA [Suspect]
     Active Substance: ABATACEPT
     Route: 065
  836. ORENCIA [Suspect]
     Active Substance: ABATACEPT
     Indication: Rheumatoid arthritis
     Route: 065
  837. OTEZLA [Suspect]
     Active Substance: APREMILAST
     Route: 065
  838. OTEZLA [Suspect]
     Active Substance: APREMILAST
     Indication: Product used for unknown indication
     Route: 065
  839. OTEZLA [Suspect]
     Active Substance: APREMILAST
     Route: 065
  840. OXYCODONE [Suspect]
     Active Substance: OXYCODONE
     Indication: Product used for unknown indication
     Route: 065
  841. OXYCODONE [Suspect]
     Active Substance: OXYCODONE
     Route: 065
  842. OXYCODONE [Suspect]
     Active Substance: OXYCODONE
     Route: 065
  843. OXYCODONE TEREPHTHALATE [Suspect]
     Active Substance: OXYCODONE TEREPHTHALATE
     Indication: Product used for unknown indication
     Route: 065
  844. OXYCODONE TEREPHTHALATE [Suspect]
     Active Substance: OXYCODONE TEREPHTHALATE
     Route: 065
  845. OXYCODONE TEREPHTHALATE [Suspect]
     Active Substance: OXYCODONE TEREPHTHALATE
     Route: 065
  846. PERIOGARD [Suspect]
     Active Substance: CHLORHEXIDINE GLUCONATE
     Indication: Product used for unknown indication
     Route: 065
  847. PHENYLEPHRINE HYDROCHLORIDE [Suspect]
     Active Substance: PHENYLEPHRINE HYDROCHLORIDE
     Route: 065
  848. PHENYLEPHRINE HYDROCHLORIDE [Suspect]
     Active Substance: PHENYLEPHRINE HYDROCHLORIDE
     Route: 065
  849. PHENYLEPHRINE HYDROCHLORIDE [Suspect]
     Active Substance: PHENYLEPHRINE HYDROCHLORIDE
     Route: 065
  850. PHENYLEPHRINE HYDROCHLORIDE [Suspect]
     Active Substance: PHENYLEPHRINE HYDROCHLORIDE
     Indication: Rheumatoid arthritis
     Route: 065
  851. COCOA BUTTER\PHENYLEPHRINE HYDROCHLORIDE [Suspect]
     Active Substance: COCOA BUTTER\PHENYLEPHRINE HYDROCHLORIDE
     Indication: Rheumatoid arthritis
     Route: 065
  852. PHTHALYLSULFATHIAZOLE [Suspect]
     Active Substance: PHTHALYLSULFATHIAZOLE
     Route: 048
  853. PHTHALYLSULFATHIAZOLE [Suspect]
     Active Substance: PHTHALYLSULFATHIAZOLE
     Route: 048
  854. PHTHALYLSULFATHIAZOLE [Suspect]
     Active Substance: PHTHALYLSULFATHIAZOLE
     Route: 048
  855. PHTHALYLSULFATHIAZOLE [Suspect]
     Active Substance: PHTHALYLSULFATHIAZOLE
     Route: 048
  856. PHTHALYLSULFATHIAZOLE [Suspect]
     Active Substance: PHTHALYLSULFATHIAZOLE
     Route: 048
  857. PHTHALYLSULFATHIAZOLE [Suspect]
     Active Substance: PHTHALYLSULFATHIAZOLE
     Route: 065
  858. PHTHALYLSULFATHIAZOLE [Suspect]
     Active Substance: PHTHALYLSULFATHIAZOLE
     Route: 065
  859. PHTHALYLSULFATHIAZOLE [Suspect]
     Active Substance: PHTHALYLSULFATHIAZOLE
     Route: 065
  860. PHTHALYLSULFATHIAZOLE [Suspect]
     Active Substance: PHTHALYLSULFATHIAZOLE
     Indication: Product used for unknown indication
     Route: 048
  861. PHTHALYLSULFATHIAZOLE [Suspect]
     Active Substance: PHTHALYLSULFATHIAZOLE
     Route: 048
  862. PHTHALYLSULFATHIAZOLE [Suspect]
     Active Substance: PHTHALYLSULFATHIAZOLE
     Route: 048
  863. PHTHALYLSULFATHIAZOLE [Suspect]
     Active Substance: PHTHALYLSULFATHIAZOLE
     Route: 048
  864. PHTHALYLSULFATHIAZOLE [Suspect]
     Active Substance: PHTHALYLSULFATHIAZOLE
     Route: 048
  865. PHTHALYLSULFATHIAZOLE [Suspect]
     Active Substance: PHTHALYLSULFATHIAZOLE
     Route: 042
  866. PHTHALYLSULFATHIAZOLE [Suspect]
     Active Substance: PHTHALYLSULFATHIAZOLE
     Route: 042
  867. PHTHALYLSULFATHIAZOLE [Suspect]
     Active Substance: PHTHALYLSULFATHIAZOLE
     Route: 042
  868. PHTHALYLSULFATHIAZOLE [Suspect]
     Active Substance: PHTHALYLSULFATHIAZOLE
     Route: 042
  869. PHTHALYLSULFATHIAZOLE [Suspect]
     Active Substance: PHTHALYLSULFATHIAZOLE
     Route: 058
  870. PHTHALYLSULFATHIAZOLE [Suspect]
     Active Substance: PHTHALYLSULFATHIAZOLE
     Route: 058
  871. PHTHALYLSULFATHIAZOLE [Suspect]
     Active Substance: PHTHALYLSULFATHIAZOLE
     Route: 058
  872. PHTHALYLSULFATHIAZOLE [Suspect]
     Active Substance: PHTHALYLSULFATHIAZOLE
     Route: 058
  873. PHTHALYLSULFATHIAZOLE [Suspect]
     Active Substance: PHTHALYLSULFATHIAZOLE
     Route: 058
  874. PHTHALYLSULFATHIAZOLE [Suspect]
     Active Substance: PHTHALYLSULFATHIAZOLE
     Route: 065
  875. PHTHALYLSULFATHIAZOLE [Suspect]
     Active Substance: PHTHALYLSULFATHIAZOLE
     Route: 065
  876. PHTHALYLSULFATHIAZOLE [Suspect]
     Active Substance: PHTHALYLSULFATHIAZOLE
     Route: 065
  877. PHTHALYLSULFATHIAZOLE [Suspect]
     Active Substance: PHTHALYLSULFATHIAZOLE
     Route: 065
  878. PHTHALYLSULFATHIAZOLE [Suspect]
     Active Substance: PHTHALYLSULFATHIAZOLE
     Route: 065
  879. PHTHALYLSULFATHIAZOLE [Suspect]
     Active Substance: PHTHALYLSULFATHIAZOLE
     Route: 065
  880. PHTHALYLSULFATHIAZOLE [Suspect]
     Active Substance: PHTHALYLSULFATHIAZOLE
     Route: 065
  881. PHTHALYLSULFATHIAZOLE [Suspect]
     Active Substance: PHTHALYLSULFATHIAZOLE
     Route: 065
  882. PHTHALYLSULFATHIAZOLE [Suspect]
     Active Substance: PHTHALYLSULFATHIAZOLE
     Route: 065
  883. PHTHALYLSULFATHIAZOLE [Suspect]
     Active Substance: PHTHALYLSULFATHIAZOLE
     Route: 065
  884. PHTHALYLSULFATHIAZOLE [Suspect]
     Active Substance: PHTHALYLSULFATHIAZOLE
     Route: 065
  885. PHTHALYLSULFATHIAZOLE [Suspect]
     Active Substance: PHTHALYLSULFATHIAZOLE
     Route: 065
  886. PHTHALYLSULFATHIAZOLE [Suspect]
     Active Substance: PHTHALYLSULFATHIAZOLE
     Indication: Rheumatoid arthritis
     Route: 065
  887. PREDNISONE [Suspect]
     Active Substance: PREDNISONE
     Route: 048
  888. PREDNISONE [Suspect]
     Active Substance: PREDNISONE
     Route: 048
  889. PREDNISONE [Suspect]
     Active Substance: PREDNISONE
     Route: 065
  890. PREDNISONE [Suspect]
     Active Substance: PREDNISONE
     Route: 065
  891. PREDNISONE [Suspect]
     Active Substance: PREDNISONE
     Route: 065
  892. PREDNISONE [Suspect]
     Active Substance: PREDNISONE
     Route: 065
  893. PREDNISONE [Suspect]
     Active Substance: PREDNISONE
     Route: 065
  894. PREDNISONE [Suspect]
     Active Substance: PREDNISONE
     Route: 065
  895. PREDNISONE [Suspect]
     Active Substance: PREDNISONE
     Route: 048
  896. PREDNISONE [Suspect]
     Active Substance: PREDNISONE
     Route: 048
  897. PREDNISONE [Suspect]
     Active Substance: PREDNISONE
     Route: 048
  898. PREDNISONE [Suspect]
     Active Substance: PREDNISONE
     Route: 048
  899. PREDNISONE [Suspect]
     Active Substance: PREDNISONE
     Route: 048
  900. PREDNISONE [Suspect]
     Active Substance: PREDNISONE
     Route: 048
  901. PREDNISONE [Suspect]
     Active Substance: PREDNISONE
     Route: 065
  902. PREDNISONE [Suspect]
     Active Substance: PREDNISONE
     Route: 065
  903. PREDNISONE [Suspect]
     Active Substance: PREDNISONE
     Route: 065
  904. PREDNISONE [Suspect]
     Active Substance: PREDNISONE
     Route: 048
  905. PREDNISONE [Suspect]
     Active Substance: PREDNISONE
     Route: 048
  906. PREDNISONE [Suspect]
     Active Substance: PREDNISONE
     Route: 065
  907. PREDNISONE [Suspect]
     Active Substance: PREDNISONE
     Route: 048
  908. PREDNISONE [Suspect]
     Active Substance: PREDNISONE
     Route: 048
  909. PREDNISONE [Suspect]
     Active Substance: PREDNISONE
     Route: 048
  910. PREDNISONE [Suspect]
     Active Substance: PREDNISONE
     Route: 065
  911. PREDNISONE [Suspect]
     Active Substance: PREDNISONE
     Route: 065
  912. PREDNISONE [Suspect]
     Active Substance: PREDNISONE
     Route: 065
  913. PREDNISONE [Suspect]
     Active Substance: PREDNISONE
     Route: 065
  914. PREDNISONE [Suspect]
     Active Substance: PREDNISONE
     Route: 065
  915. PREDNISONE [Suspect]
     Active Substance: PREDNISONE
     Route: 065
  916. PREDNISONE [Suspect]
     Active Substance: PREDNISONE
     Indication: Rheumatoid arthritis
     Route: 065
  917. PSEUDOEPHEDRINE [Suspect]
     Active Substance: PSEUDOEPHEDRINE
     Route: 065
  918. PSEUDOEPHEDRINE [Suspect]
     Active Substance: PSEUDOEPHEDRINE
     Route: 065
  919. PSEUDOEPHEDRINE [Suspect]
     Active Substance: PSEUDOEPHEDRINE
     Route: 065
  920. PSEUDOEPHEDRINE [Suspect]
     Active Substance: PSEUDOEPHEDRINE
     Route: 065
  921. PSEUDOEPHEDRINE [Suspect]
     Active Substance: PSEUDOEPHEDRINE
     Route: 065
  922. PSEUDOEPHEDRINE [Suspect]
     Active Substance: PSEUDOEPHEDRINE
     Route: 065
  923. PSEUDOEPHEDRINE [Suspect]
     Active Substance: PSEUDOEPHEDRINE
     Route: 065
  924. PSEUDOEPHEDRINE [Suspect]
     Active Substance: PSEUDOEPHEDRINE
     Route: 065
  925. PSEUDOEPHEDRINE [Suspect]
     Active Substance: PSEUDOEPHEDRINE
     Route: 065
  926. PSEUDOEPHEDRINE [Suspect]
     Active Substance: PSEUDOEPHEDRINE
     Indication: Rheumatoid arthritis
     Route: 065
  927. PSEUDOEPHEDRINE [Suspect]
     Active Substance: PSEUDOEPHEDRINE
     Route: 065
  928. PSEUDOEPHEDRINE [Suspect]
     Active Substance: PSEUDOEPHEDRINE
     Route: 065
  929. RAMIPRIL [Suspect]
     Active Substance: RAMIPRIL
     Route: 016
  930. RAMIPRIL [Suspect]
     Active Substance: RAMIPRIL
     Route: 016
  931. RAMIPRIL [Suspect]
     Active Substance: RAMIPRIL
     Route: 042
  932. RAMIPRIL [Suspect]
     Active Substance: RAMIPRIL
     Route: 042
  933. RAMIPRIL [Suspect]
     Active Substance: RAMIPRIL
     Indication: Rheumatoid arthritis
     Route: 065
  934. RAMIPRIL [Suspect]
     Active Substance: RAMIPRIL
     Route: 065
  935. RAMIPRIL [Suspect]
     Active Substance: RAMIPRIL
     Route: 065
  936. RAMIPRIL [Suspect]
     Active Substance: RAMIPRIL
     Route: 065
  937. RANITIDINE [Suspect]
     Active Substance: RANITIDINE
     Route: 065
  938. RANITIDINE [Suspect]
     Active Substance: RANITIDINE
     Route: 065
  939. RANITIDINE [Suspect]
     Active Substance: RANITIDINE
     Indication: Product used for unknown indication
     Route: 065
  940. RANITIDINE HYDROCHLORIDE [Suspect]
     Active Substance: RANITIDINE HYDROCHLORIDE
     Indication: Product used for unknown indication
     Route: 065
  941. CETIRIZINE HYDROCHLORIDE\PSEUDOEPHEDRINE HYDROCHLORIDE [Suspect]
     Active Substance: CETIRIZINE HYDROCHLORIDE\PSEUDOEPHEDRINE HYDROCHLORIDE
     Route: 065
  942. CETIRIZINE HYDROCHLORIDE\PSEUDOEPHEDRINE HYDROCHLORIDE [Suspect]
     Active Substance: CETIRIZINE HYDROCHLORIDE\PSEUDOEPHEDRINE HYDROCHLORIDE
     Route: 065
  943. CETIRIZINE HYDROCHLORIDE\PSEUDOEPHEDRINE HYDROCHLORIDE [Suspect]
     Active Substance: CETIRIZINE HYDROCHLORIDE\PSEUDOEPHEDRINE HYDROCHLORIDE
     Route: 065
  944. CETIRIZINE HYDROCHLORIDE\PSEUDOEPHEDRINE HYDROCHLORIDE [Suspect]
     Active Substance: CETIRIZINE HYDROCHLORIDE\PSEUDOEPHEDRINE HYDROCHLORIDE
     Route: 065
  945. CETIRIZINE HYDROCHLORIDE\PSEUDOEPHEDRINE HYDROCHLORIDE [Suspect]
     Active Substance: CETIRIZINE HYDROCHLORIDE\PSEUDOEPHEDRINE HYDROCHLORIDE
     Route: 065
  946. CETIRIZINE HYDROCHLORIDE\PSEUDOEPHEDRINE HYDROCHLORIDE [Suspect]
     Active Substance: CETIRIZINE HYDROCHLORIDE\PSEUDOEPHEDRINE HYDROCHLORIDE
     Route: 065
  947. CETIRIZINE HYDROCHLORIDE\PSEUDOEPHEDRINE HYDROCHLORIDE [Suspect]
     Active Substance: CETIRIZINE HYDROCHLORIDE\PSEUDOEPHEDRINE HYDROCHLORIDE
     Route: 065
  948. CETIRIZINE HYDROCHLORIDE\PSEUDOEPHEDRINE HYDROCHLORIDE [Suspect]
     Active Substance: CETIRIZINE HYDROCHLORIDE\PSEUDOEPHEDRINE HYDROCHLORIDE
     Route: 065
  949. CETIRIZINE HYDROCHLORIDE\PSEUDOEPHEDRINE HYDROCHLORIDE [Suspect]
     Active Substance: CETIRIZINE HYDROCHLORIDE\PSEUDOEPHEDRINE HYDROCHLORIDE
     Route: 065
  950. CETIRIZINE HYDROCHLORIDE\PSEUDOEPHEDRINE HYDROCHLORIDE [Suspect]
     Active Substance: CETIRIZINE HYDROCHLORIDE\PSEUDOEPHEDRINE HYDROCHLORIDE
     Route: 065
  951. CETIRIZINE HYDROCHLORIDE\PSEUDOEPHEDRINE HYDROCHLORIDE [Suspect]
     Active Substance: CETIRIZINE HYDROCHLORIDE\PSEUDOEPHEDRINE HYDROCHLORIDE
     Route: 065
  952. CETIRIZINE HYDROCHLORIDE\PSEUDOEPHEDRINE HYDROCHLORIDE [Suspect]
     Active Substance: CETIRIZINE HYDROCHLORIDE\PSEUDOEPHEDRINE HYDROCHLORIDE
     Route: 065
  953. CETIRIZINE HYDROCHLORIDE\PSEUDOEPHEDRINE HYDROCHLORIDE [Suspect]
     Active Substance: CETIRIZINE HYDROCHLORIDE\PSEUDOEPHEDRINE HYDROCHLORIDE
     Route: 065
  954. CETIRIZINE HYDROCHLORIDE\PSEUDOEPHEDRINE HYDROCHLORIDE [Suspect]
     Active Substance: CETIRIZINE HYDROCHLORIDE\PSEUDOEPHEDRINE HYDROCHLORIDE
     Route: 065
  955. CETIRIZINE HYDROCHLORIDE\PSEUDOEPHEDRINE HYDROCHLORIDE [Suspect]
     Active Substance: CETIRIZINE HYDROCHLORIDE\PSEUDOEPHEDRINE HYDROCHLORIDE
     Route: 040
  956. CETIRIZINE HYDROCHLORIDE\PSEUDOEPHEDRINE HYDROCHLORIDE [Suspect]
     Active Substance: CETIRIZINE HYDROCHLORIDE\PSEUDOEPHEDRINE HYDROCHLORIDE
     Route: 042
  957. CETIRIZINE HYDROCHLORIDE\PSEUDOEPHEDRINE HYDROCHLORIDE [Suspect]
     Active Substance: CETIRIZINE HYDROCHLORIDE\PSEUDOEPHEDRINE HYDROCHLORIDE
     Indication: Rheumatoid arthritis
     Route: 065
  958. CETIRIZINE HYDROCHLORIDE\PSEUDOEPHEDRINE HYDROCHLORIDE [Suspect]
     Active Substance: CETIRIZINE HYDROCHLORIDE\PSEUDOEPHEDRINE HYDROCHLORIDE
     Route: 065
  959. CETIRIZINE HYDROCHLORIDE\PSEUDOEPHEDRINE HYDROCHLORIDE [Suspect]
     Active Substance: CETIRIZINE HYDROCHLORIDE\PSEUDOEPHEDRINE HYDROCHLORIDE
     Route: 065
  960. CETIRIZINE HYDROCHLORIDE\PSEUDOEPHEDRINE HYDROCHLORIDE [Suspect]
     Active Substance: CETIRIZINE HYDROCHLORIDE\PSEUDOEPHEDRINE HYDROCHLORIDE
     Route: 065
  961. CETIRIZINE HYDROCHLORIDE\PSEUDOEPHEDRINE HYDROCHLORIDE [Suspect]
     Active Substance: CETIRIZINE HYDROCHLORIDE\PSEUDOEPHEDRINE HYDROCHLORIDE
     Route: 065
  962. CETIRIZINE HYDROCHLORIDE\PSEUDOEPHEDRINE HYDROCHLORIDE [Suspect]
     Active Substance: CETIRIZINE HYDROCHLORIDE\PSEUDOEPHEDRINE HYDROCHLORIDE
     Route: 065
  963. CETIRIZINE HYDROCHLORIDE\PSEUDOEPHEDRINE HYDROCHLORIDE [Suspect]
     Active Substance: CETIRIZINE HYDROCHLORIDE\PSEUDOEPHEDRINE HYDROCHLORIDE
     Route: 065
  964. CETIRIZINE HYDROCHLORIDE\PSEUDOEPHEDRINE HYDROCHLORIDE [Suspect]
     Active Substance: CETIRIZINE HYDROCHLORIDE\PSEUDOEPHEDRINE HYDROCHLORIDE
     Route: 065
  965. CETIRIZINE HYDROCHLORIDE\PSEUDOEPHEDRINE HYDROCHLORIDE [Suspect]
     Active Substance: CETIRIZINE HYDROCHLORIDE\PSEUDOEPHEDRINE HYDROCHLORIDE
     Route: 065
  966. REMICADE [Suspect]
     Active Substance: INFLIXIMAB
     Route: 040
  967. REMICADE [Suspect]
     Active Substance: INFLIXIMAB
     Route: 042
  968. REMICADE [Suspect]
     Active Substance: INFLIXIMAB
     Route: 065
  969. REMICADE [Suspect]
     Active Substance: INFLIXIMAB
     Route: 040
  970. REMICADE [Suspect]
     Active Substance: INFLIXIMAB
     Route: 042
  971. REMICADE [Suspect]
     Active Substance: INFLIXIMAB
     Route: 042
  972. REMICADE [Suspect]
     Active Substance: INFLIXIMAB
     Route: 065
  973. REMICADE [Suspect]
     Active Substance: INFLIXIMAB
     Route: 065
  974. REMICADE [Suspect]
     Active Substance: INFLIXIMAB
     Route: 042
  975. REMICADE [Suspect]
     Active Substance: INFLIXIMAB
     Route: 042
  976. REMICADE [Suspect]
     Active Substance: INFLIXIMAB
     Route: 065
  977. REMICADE [Suspect]
     Active Substance: INFLIXIMAB
     Route: 040
  978. REMICADE [Suspect]
     Active Substance: INFLIXIMAB
     Route: 040
  979. REMICADE [Suspect]
     Active Substance: INFLIXIMAB
     Route: 042
  980. REMICADE [Suspect]
     Active Substance: INFLIXIMAB
     Route: 042
  981. REMICADE [Suspect]
     Active Substance: INFLIXIMAB
     Route: 042
  982. REMICADE [Suspect]
     Active Substance: INFLIXIMAB
     Route: 058
  983. REMICADE [Suspect]
     Active Substance: INFLIXIMAB
     Route: 058
  984. REMICADE [Suspect]
     Active Substance: INFLIXIMAB
     Route: 058
  985. REMICADE [Suspect]
     Active Substance: INFLIXIMAB
     Route: 058
  986. REMICADE [Suspect]
     Active Substance: INFLIXIMAB
     Route: 058
  987. REMICADE [Suspect]
     Active Substance: INFLIXIMAB
     Route: 058
  988. REMICADE [Suspect]
     Active Substance: INFLIXIMAB
     Route: 065
  989. REMICADE [Suspect]
     Active Substance: INFLIXIMAB
     Route: 065
  990. REMICADE [Suspect]
     Active Substance: INFLIXIMAB
     Route: 065
  991. REMICADE [Suspect]
     Active Substance: INFLIXIMAB
     Route: 065
  992. REMICADE [Suspect]
     Active Substance: INFLIXIMAB
     Indication: Rheumatoid arthritis
     Route: 065
  993. RITUXIMAB [Suspect]
     Active Substance: RITUXIMAB
     Route: 065
  994. RITUXIMAB [Suspect]
     Active Substance: RITUXIMAB
     Route: 065
  995. RITUXIMAB [Suspect]
     Active Substance: RITUXIMAB
     Indication: Rheumatoid arthritis
     Route: 065
  996. RITUXIMAB [Suspect]
     Active Substance: RITUXIMAB
     Route: 065
  997. RITUXIMAB [Suspect]
     Active Substance: RITUXIMAB
     Route: 065
  998. RITUXIMAB [Suspect]
     Active Substance: RITUXIMAB
     Route: 042
  999. RITUXIMAB [Suspect]
     Active Substance: RITUXIMAB
     Route: 042
  1000. RITUXIMAB [Suspect]
     Active Substance: RITUXIMAB
     Route: 065
  1001. RITUXIMAB [Suspect]
     Active Substance: RITUXIMAB
     Route: 065
  1002. RITUXIMAB [Suspect]
     Active Substance: RITUXIMAB
     Route: 042
  1003. RITUXIMAB [Suspect]
     Active Substance: RITUXIMAB
     Route: 065
  1004. RITUXIMAB [Suspect]
     Active Substance: RITUXIMAB
     Route: 065
  1005. RITUXIMAB [Suspect]
     Active Substance: RITUXIMAB
     Route: 065
  1006. RITUXIMAB [Suspect]
     Active Substance: RITUXIMAB
     Route: 065
  1007. RITUXIMAB [Suspect]
     Active Substance: RITUXIMAB
     Route: 065
  1008. RITUXIMAB [Suspect]
     Active Substance: RITUXIMAB
     Route: 065
  1009. RITUXIMAB [Suspect]
     Active Substance: RITUXIMAB
     Route: 065
  1010. RITUXIMAB [Suspect]
     Active Substance: RITUXIMAB
     Route: 065
  1011. RITUXIMAB [Suspect]
     Active Substance: RITUXIMAB
     Route: 065
  1012. RITUXIMAB [Suspect]
     Active Substance: RITUXIMAB
     Route: 065
  1013. RITUXIMAB [Suspect]
     Active Substance: RITUXIMAB
     Route: 065
  1014. RITUXIMAB [Suspect]
     Active Substance: RITUXIMAB
     Route: 065
  1015. RITUXIMAB [Suspect]
     Active Substance: RITUXIMAB
     Route: 016
  1016. RITUXIMAB [Suspect]
     Active Substance: RITUXIMAB
     Route: 016
  1017. RITUXIMAB [Suspect]
     Active Substance: RITUXIMAB
     Route: 016
  1018. RITUXIMAB [Suspect]
     Active Substance: RITUXIMAB
     Route: 016
  1019. RITUXIMAB [Suspect]
     Active Substance: RITUXIMAB
     Route: 016
  1020. RITUXIMAB [Suspect]
     Active Substance: RITUXIMAB
     Route: 016
  1021. RITUXIMAB [Suspect]
     Active Substance: RITUXIMAB
     Route: 016
  1022. RITUXIMAB [Suspect]
     Active Substance: RITUXIMAB
     Indication: Rheumatoid arthritis
     Route: 042
  1023. RITUXIMAB [Suspect]
     Active Substance: RITUXIMAB
     Route: 042
  1024. RITUXIMAB [Suspect]
     Active Substance: RITUXIMAB
     Route: 042
  1025. RITUXIMAB [Suspect]
     Active Substance: RITUXIMAB
     Route: 042
  1026. RITUXIMAB [Suspect]
     Active Substance: RITUXIMAB
     Route: 042
  1027. RITUXIMAB [Suspect]
     Active Substance: RITUXIMAB
     Route: 043
  1028. RITUXIMAB [Suspect]
     Active Substance: RITUXIMAB
     Route: 043
  1029. RITUXIMAB [Suspect]
     Active Substance: RITUXIMAB
     Route: 043
  1030. RITUXIMAB [Suspect]
     Active Substance: RITUXIMAB
     Route: 043
  1031. RITUXIMAB [Suspect]
     Active Substance: RITUXIMAB
     Route: 043
  1032. RITUXIMAB [Suspect]
     Active Substance: RITUXIMAB
     Route: 058
  1033. RITUXIMAB [Suspect]
     Active Substance: RITUXIMAB
     Route: 058
  1034. RITUXIMAB [Suspect]
     Active Substance: RITUXIMAB
     Route: 058
  1035. RITUXIMAB [Suspect]
     Active Substance: RITUXIMAB
     Route: 058
  1036. RITUXIMAB [Suspect]
     Active Substance: RITUXIMAB
     Route: 058
  1037. RITUXIMAB [Suspect]
     Active Substance: RITUXIMAB
     Route: 058
  1038. RITUXIMAB [Suspect]
     Active Substance: RITUXIMAB
     Route: 065
  1039. RITUXIMAB [Suspect]
     Active Substance: RITUXIMAB
     Route: 065
  1040. RITUXIMAB [Suspect]
     Active Substance: RITUXIMAB
     Route: 065
  1041. RITUXIMAB [Suspect]
     Active Substance: RITUXIMAB
     Route: 065
  1042. RITUXIMAB [Suspect]
     Active Substance: RITUXIMAB
     Route: 065
  1043. RITUXIMAB [Suspect]
     Active Substance: RITUXIMAB
     Route: 065
  1044. RITUXIMAB [Suspect]
     Active Substance: RITUXIMAB
     Route: 065
  1045. RITUXIMAB [Suspect]
     Active Substance: RITUXIMAB
     Route: 042
  1046. RITUXIMAB [Suspect]
     Active Substance: RITUXIMAB
     Route: 042
  1047. RITUXIMAB [Suspect]
     Active Substance: RITUXIMAB
     Route: 043
  1048. RITUXIMAB [Suspect]
     Active Substance: RITUXIMAB
     Route: 058
  1049. SULFASALAZINE [Suspect]
     Active Substance: SULFASALAZINE
     Route: 065
  1050. SULFASALAZINE [Suspect]
     Active Substance: SULFASALAZINE
     Indication: Product used for unknown indication
     Route: 065
  1051. SIMPONI [Suspect]
     Active Substance: GOLIMUMAB
     Route: 058
  1052. SIMPONI [Suspect]
     Active Substance: GOLIMUMAB
     Route: 058
  1053. SIMPONI [Suspect]
     Active Substance: GOLIMUMAB
     Route: 065
  1054. SIMPONI [Suspect]
     Active Substance: GOLIMUMAB
     Indication: Product used for unknown indication
     Route: 058
  1055. SIMPONI [Suspect]
     Active Substance: GOLIMUMAB
     Route: 058
  1056. SIMPONI [Suspect]
     Active Substance: GOLIMUMAB
     Route: 058
  1057. SIMPONI [Suspect]
     Active Substance: GOLIMUMAB
     Route: 058
  1058. SIMPONI [Suspect]
     Active Substance: GOLIMUMAB
     Route: 065
  1059. SIRUKUMAB [Suspect]
     Active Substance: SIRUKUMAB
     Route: 065
  1060. SIRUKUMAB [Suspect]
     Active Substance: SIRUKUMAB
     Indication: Product used for unknown indication
     Route: 065
  1061. GOLD SODIUM THIOMALATE [Suspect]
     Active Substance: GOLD SODIUM THIOMALATE
     Route: 065
  1062. GOLD SODIUM THIOMALATE [Suspect]
     Active Substance: GOLD SODIUM THIOMALATE
     Route: 058
  1063. GOLD SODIUM THIOMALATE [Suspect]
     Active Substance: GOLD SODIUM THIOMALATE
     Route: 042
  1064. GOLD SODIUM THIOMALATE [Suspect]
     Active Substance: GOLD SODIUM THIOMALATE
     Indication: Rheumatoid arthritis
     Route: 065
  1065. GOLD SODIUM THIOMALATE [Suspect]
     Active Substance: GOLD SODIUM THIOMALATE
     Route: 042
  1066. GOLD SODIUM THIOMALATE [Suspect]
     Active Substance: GOLD SODIUM THIOMALATE
     Route: 048
  1067. GOLD SODIUM THIOMALATE [Suspect]
     Active Substance: GOLD SODIUM THIOMALATE
     Indication: Product used for unknown indication
     Route: 058
  1068. GOLD SODIUM THIOMALATE [Suspect]
     Active Substance: GOLD SODIUM THIOMALATE
     Route: 065
  1069. GOLD SODIUM THIOMALATE [Suspect]
     Active Substance: GOLD SODIUM THIOMALATE
     Route: 065
  1070. GOLD SODIUM THIOMALATE [Suspect]
     Active Substance: GOLD SODIUM THIOMALATE
     Route: 065
  1071. STELARA [Suspect]
     Active Substance: USTEKINUMAB
     Route: 065
  1072. STELARA [Suspect]
     Active Substance: USTEKINUMAB
     Route: 065
  1073. STELARA [Suspect]
     Active Substance: USTEKINUMAB
     Indication: Product used for unknown indication
     Route: 058
  1074. STELARA [Suspect]
     Active Substance: USTEKINUMAB
     Route: 058
  1075. STELARA [Suspect]
     Active Substance: USTEKINUMAB
     Route: 058
  1076. SULFAMETHOXAZOLE AND TRIMETHOPRIM [Suspect]
     Active Substance: SULFAMETHOXAZOLE\TRIMETHOPRIM
     Indication: Product used for unknown indication
     Route: 065
  1077. SULFASALAZINE [Suspect]
     Active Substance: SULFASALAZINE
     Route: 048
  1078. SULFASALAZINE [Suspect]
     Active Substance: SULFASALAZINE
     Route: 048
  1079. SULFASALAZINE [Suspect]
     Active Substance: SULFASALAZINE
     Route: 048
  1080. SULFASALAZINE [Suspect]
     Active Substance: SULFASALAZINE
     Route: 048
  1081. SULFASALAZINE [Suspect]
     Active Substance: SULFASALAZINE
     Route: 048
  1082. SULFASALAZINE [Suspect]
     Active Substance: SULFASALAZINE
     Route: 058
  1083. SULFASALAZINE [Suspect]
     Active Substance: SULFASALAZINE
     Route: 058
  1084. SULFASALAZINE [Suspect]
     Active Substance: SULFASALAZINE
     Route: 058
  1085. SULFASALAZINE [Suspect]
     Active Substance: SULFASALAZINE
     Route: 065
  1086. SULFASALAZINE [Suspect]
     Active Substance: SULFASALAZINE
     Route: 065
  1087. SULFASALAZINE [Suspect]
     Active Substance: SULFASALAZINE
     Route: 048
  1088. SULFASALAZINE [Suspect]
     Active Substance: SULFASALAZINE
     Route: 058
  1089. SULFASALAZINE [Suspect]
     Active Substance: SULFASALAZINE
     Route: 048
  1090. SULFASALAZINE [Suspect]
     Active Substance: SULFASALAZINE
     Route: 058
  1091. SULFASALAZINE [Suspect]
     Active Substance: SULFASALAZINE
     Route: 048
  1092. SULFASALAZINE [Suspect]
     Active Substance: SULFASALAZINE
     Route: 065
  1093. SULFASALAZINE [Suspect]
     Active Substance: SULFASALAZINE
     Route: 065
  1094. SULFASALAZINE [Suspect]
     Active Substance: SULFASALAZINE
     Route: 058
  1095. SULFASALAZINE [Suspect]
     Active Substance: SULFASALAZINE
     Route: 065
  1096. SULFASALAZINE [Suspect]
     Active Substance: SULFASALAZINE
     Route: 065
  1097. SULFASALAZINE [Suspect]
     Active Substance: SULFASALAZINE
     Route: 048
  1098. SULFASALAZINE [Suspect]
     Active Substance: SULFASALAZINE
     Route: 058
  1099. SULFASALAZINE [Suspect]
     Active Substance: SULFASALAZINE
     Route: 016
  1100. SULFASALAZINE [Suspect]
     Active Substance: SULFASALAZINE
     Route: 048
  1101. SULFASALAZINE [Suspect]
     Active Substance: SULFASALAZINE
     Route: 048
  1102. SULFASALAZINE [Suspect]
     Active Substance: SULFASALAZINE
     Route: 048
  1103. SULFASALAZINE [Suspect]
     Active Substance: SULFASALAZINE
     Route: 048
  1104. SULFASALAZINE [Suspect]
     Active Substance: SULFASALAZINE
     Route: 058
  1105. SULFASALAZINE [Suspect]
     Active Substance: SULFASALAZINE
     Route: 058
  1106. SULFASALAZINE [Suspect]
     Active Substance: SULFASALAZINE
     Indication: Rheumatoid arthritis
     Route: 065
  1107. SULFASALAZINE [Suspect]
     Active Substance: SULFASALAZINE
     Route: 065
  1108. SULFASALAZINE [Suspect]
     Active Substance: SULFASALAZINE
     Route: 048
  1109. SULFASALAZINE [Suspect]
     Active Substance: SULFASALAZINE
     Route: 048
  1110. TETRACYCLINE HYDROCHLORIDE [Suspect]
     Active Substance: TETRACYCLINE HYDROCHLORIDE
     Indication: Rheumatoid arthritis
     Route: 065
  1111. TOCILIZUMAB [Suspect]
     Active Substance: TOCILIZUMAB
     Route: 065
  1112. TOCILIZUMAB [Suspect]
     Active Substance: TOCILIZUMAB
     Route: 065
  1113. TOCILIZUMAB [Suspect]
     Active Substance: TOCILIZUMAB
     Route: 058
  1114. TOCILIZUMAB [Suspect]
     Active Substance: TOCILIZUMAB
     Route: 058
  1115. TOCILIZUMAB [Suspect]
     Active Substance: TOCILIZUMAB
     Route: 058
  1116. TOCILIZUMAB [Suspect]
     Active Substance: TOCILIZUMAB
     Route: 058
  1117. TOCILIZUMAB [Suspect]
     Active Substance: TOCILIZUMAB
     Route: 058
  1118. TOCILIZUMAB [Suspect]
     Active Substance: TOCILIZUMAB
     Route: 042
  1119. TOCILIZUMAB [Suspect]
     Active Substance: TOCILIZUMAB
     Route: 058
  1120. TOCILIZUMAB [Suspect]
     Active Substance: TOCILIZUMAB
     Route: 042
  1121. TOCILIZUMAB [Suspect]
     Active Substance: TOCILIZUMAB
     Route: 042
  1122. TOCILIZUMAB [Suspect]
     Active Substance: TOCILIZUMAB
     Route: 058
  1123. TOCILIZUMAB [Suspect]
     Active Substance: TOCILIZUMAB
     Route: 042
  1124. TOCILIZUMAB [Suspect]
     Active Substance: TOCILIZUMAB
     Route: 058
  1125. TOCILIZUMAB [Suspect]
     Active Substance: TOCILIZUMAB
     Route: 058
  1126. TOCILIZUMAB [Suspect]
     Active Substance: TOCILIZUMAB
     Route: 016
  1127. TOCILIZUMAB [Suspect]
     Active Substance: TOCILIZUMAB
     Route: 042
  1128. TOCILIZUMAB [Suspect]
     Active Substance: TOCILIZUMAB
     Route: 042
  1129. TOCILIZUMAB [Suspect]
     Active Substance: TOCILIZUMAB
     Route: 065
  1130. TOCILIZUMAB [Suspect]
     Active Substance: TOCILIZUMAB
     Route: 065
  1131. TOCILIZUMAB [Suspect]
     Active Substance: TOCILIZUMAB
     Route: 042
  1132. TOCILIZUMAB [Suspect]
     Active Substance: TOCILIZUMAB
     Route: 016
  1133. TOCILIZUMAB [Suspect]
     Active Substance: TOCILIZUMAB
     Route: 042
  1134. TOCILIZUMAB [Suspect]
     Active Substance: TOCILIZUMAB
     Route: 050
  1135. TOCILIZUMAB [Suspect]
     Active Substance: TOCILIZUMAB
     Route: 058
  1136. TOCILIZUMAB [Suspect]
     Active Substance: TOCILIZUMAB
     Route: 058
  1137. TOCILIZUMAB [Suspect]
     Active Substance: TOCILIZUMAB
     Route: 065
  1138. TOCILIZUMAB [Suspect]
     Active Substance: TOCILIZUMAB
     Route: 065
  1139. TOCILIZUMAB [Suspect]
     Active Substance: TOCILIZUMAB
     Route: 065
  1140. TOCILIZUMAB [Suspect]
     Active Substance: TOCILIZUMAB
     Route: 065
  1141. TOCILIZUMAB [Suspect]
     Active Substance: TOCILIZUMAB
     Indication: Rheumatoid arthritis
     Route: 058
  1142. TOFACITINIB [Suspect]
     Active Substance: TOFACITINIB
     Indication: Rheumatoid arthritis
     Route: 065
  1143. TOFACITINIB [Suspect]
     Active Substance: TOFACITINIB
     Route: 065
  1144. TOFACITINIB CITRATE [Suspect]
     Active Substance: TOFACITINIB CITRATE
     Route: 048
  1145. TOFACITINIB CITRATE [Suspect]
     Active Substance: TOFACITINIB CITRATE
     Indication: Rheumatoid arthritis
     Route: 065
  1146. TOFACITINIB CITRATE [Suspect]
     Active Substance: TOFACITINIB CITRATE
     Route: 065
  1147. TOFACITINIB CITRATE [Suspect]
     Active Substance: TOFACITINIB CITRATE
     Route: 065
  1148. TOFACITINIB CITRATE [Suspect]
     Active Substance: TOFACITINIB CITRATE
     Route: 065
  1149. TOFACITINIB CITRATE [Suspect]
     Active Substance: TOFACITINIB CITRATE
     Route: 065
  1150. TOFACITINIB CITRATE [Suspect]
     Active Substance: TOFACITINIB CITRATE
     Route: 065
  1151. TOFACITINIB CITRATE [Suspect]
     Active Substance: TOFACITINIB CITRATE
     Route: 065
  1152. TOFACITINIB CITRATE [Suspect]
     Active Substance: TOFACITINIB CITRATE
     Route: 065
  1153. TOPIRAMATE [Suspect]
     Active Substance: TOPIRAMATE
     Route: 065
  1154. TOPIRAMATE [Suspect]
     Active Substance: TOPIRAMATE
     Route: 065
  1155. TOPIRAMATE [Suspect]
     Active Substance: TOPIRAMATE
     Route: 065
  1156. TOPIRAMATE [Suspect]
     Active Substance: TOPIRAMATE
     Route: 065
  1157. TOPIRAMATE [Suspect]
     Active Substance: TOPIRAMATE
     Route: 065
  1158. TOPIRAMATE [Suspect]
     Active Substance: TOPIRAMATE
     Route: 065
  1159. TOPIRAMATE [Suspect]
     Active Substance: TOPIRAMATE
     Route: 065
  1160. TOPIRAMATE [Suspect]
     Active Substance: TOPIRAMATE
     Indication: Product used for unknown indication
     Route: 065
  1161. TRAMADOL HYDROCHLORIDE [Suspect]
     Active Substance: TRAMADOL HYDROCHLORIDE
     Route: 065
  1162. TRAMADOL HYDROCHLORIDE [Suspect]
     Active Substance: TRAMADOL HYDROCHLORIDE
     Route: 065
  1163. TRAMADOL HYDROCHLORIDE [Suspect]
     Active Substance: TRAMADOL HYDROCHLORIDE
     Indication: Product used for unknown indication
     Route: 065
  1164. TRIAMCINOLONE ACETONIDE [Suspect]
     Active Substance: TRIAMCINOLONE ACETONIDE
     Route: 058
  1165. TRIAMCINOLONE ACETONIDE [Suspect]
     Active Substance: TRIAMCINOLONE ACETONIDE
     Route: 065
  1166. TRIAMCINOLONE ACETONIDE [Suspect]
     Active Substance: TRIAMCINOLONE ACETONIDE
     Route: 014
  1167. TRIAMCINOLONE ACETONIDE [Suspect]
     Active Substance: TRIAMCINOLONE ACETONIDE
     Route: 058
  1168. TRIAMCINOLONE ACETONIDE [Suspect]
     Active Substance: TRIAMCINOLONE ACETONIDE
     Route: 065
  1169. TRIAMCINOLONE ACETONIDE [Suspect]
     Active Substance: TRIAMCINOLONE ACETONIDE
     Indication: Rheumatoid arthritis
     Route: 013
  1170. USTEKINUMAB [Suspect]
     Active Substance: USTEKINUMAB
     Route: 065
  1171. USTEKINUMAB [Suspect]
     Active Substance: USTEKINUMAB
     Indication: Product used for unknown indication
     Route: 058
  1172. VITAMIN C [Suspect]
     Active Substance: ASCORBIC ACID
     Indication: Product used for unknown indication
     Route: 065
  1173. VITAMIN C [Suspect]
     Active Substance: ASCORBIC ACID
     Route: 065
  1174. VITAMIN C [Suspect]
     Active Substance: ASCORBIC ACID
     Route: 065
  1175. VITAMIN D3 [Suspect]
     Active Substance: CHOLECALCIFEROL
     Indication: Product used for unknown indication
     Route: 065
  1176. VOLTAREN [Suspect]
     Active Substance: DICLOFENAC SODIUM
     Indication: Product used for unknown indication
     Route: 065
  1177. XELJANZ [Suspect]
     Active Substance: TOFACITINIB CITRATE
     Route: 065
  1178. XELJANZ [Suspect]
     Active Substance: TOFACITINIB CITRATE
     Route: 048
  1179. XELJANZ [Suspect]
     Active Substance: TOFACITINIB CITRATE
     Route: 065
  1180. XELJANZ [Suspect]
     Active Substance: TOFACITINIB CITRATE
     Route: 048
  1181. XELJANZ [Suspect]
     Active Substance: TOFACITINIB CITRATE
     Route: 048
  1182. XELJANZ [Suspect]
     Active Substance: TOFACITINIB CITRATE
     Route: 048
  1183. XELJANZ [Suspect]
     Active Substance: TOFACITINIB CITRATE
     Route: 048
  1184. XELJANZ [Suspect]
     Active Substance: TOFACITINIB CITRATE
     Indication: Rheumatoid arthritis
     Route: 065
  1185. XELJANZ [Suspect]
     Active Substance: TOFACITINIB CITRATE
     Route: 065
  1186. XELJANZ [Suspect]
     Active Substance: TOFACITINIB CITRATE
     Route: 065
  1187. XELJANZ [Suspect]
     Active Substance: TOFACITINIB CITRATE
     Route: 065
  1188. XELJANZ [Suspect]
     Active Substance: TOFACITINIB CITRATE
     Route: 065
  1189. XELJANZ [Suspect]
     Active Substance: TOFACITINIB CITRATE
     Route: 065
  1190. ZINC [Suspect]
     Active Substance: ZINC
     Indication: Product used for unknown indication
     Route: 065
  1191. DESOGESTREL AND ETHINYL ESTRADIOL [Concomitant]
     Active Substance: DESOGESTREL\ETHINYL ESTRADIOL
     Route: 065
  1192. DESOGESTREL AND ETHINYL ESTRADIOL [Concomitant]
     Active Substance: DESOGESTREL\ETHINYL ESTRADIOL
     Route: 065
  1193. DESOGESTREL AND ETHINYL ESTRADIOL [Concomitant]
     Active Substance: DESOGESTREL\ETHINYL ESTRADIOL
     Indication: Product used for unknown indication
     Route: 065

REACTIONS (123)
  - Abdominal discomfort [Fatal]
  - Abdominal distension [Fatal]
  - Abdominal pain upper [Fatal]
  - Adverse reaction [Fatal]
  - Alopecia [Fatal]
  - Anti-cyclic citrullinated peptide antibody positive [Fatal]
  - Arthralgia [Fatal]
  - Arthropathy [Fatal]
  - Asthenia [Fatal]
  - Back injury [Fatal]
  - Blepharospasm [Fatal]
  - Blister [Fatal]
  - Blood cholesterol increased [Fatal]
  - Breast cancer stage III [Fatal]
  - Bursitis [Fatal]
  - C-reactive protein abnormal [Fatal]
  - C-reactive protein increased [Fatal]
  - Coeliac disease [Fatal]
  - Condition aggravated [Fatal]
  - Confusional state [Fatal]
  - Contraindicated product administered [Fatal]
  - Depression [Fatal]
  - Diarrhoea [Fatal]
  - Dizziness [Fatal]
  - Drug hypersensitivity [Fatal]
  - Drug ineffective [Fatal]
  - Drug intolerance [Fatal]
  - Drug-induced liver injury [Fatal]
  - Dry mouth [Fatal]
  - Duodenal ulcer perforation [Fatal]
  - Dyspepsia [Fatal]
  - Dyspnoea [Fatal]
  - Epilepsy [Fatal]
  - Exposure during pregnancy [Fatal]
  - Facet joint syndrome [Fatal]
  - Fall [Fatal]
  - Fatigue [Fatal]
  - Fibromyalgia [Fatal]
  - Finger deformity [Fatal]
  - Folliculitis [Fatal]
  - Gait inability [Fatal]
  - Gastrointestinal disorder [Fatal]
  - Gastrooesophageal reflux disease [Fatal]
  - General physical health deterioration [Fatal]
  - Glossodynia [Fatal]
  - Grip strength decreased [Fatal]
  - Hand deformity [Fatal]
  - Headache [Fatal]
  - Helicobacter infection [Fatal]
  - Hepatic enzyme increased [Fatal]
  - Hepatitis [Fatal]
  - Hypercholesterolaemia [Fatal]
  - Hypersensitivity [Fatal]
  - Hypertension [Fatal]
  - Hypoaesthesia [Fatal]
  - Ill-defined disorder [Fatal]
  - Impaired healing [Fatal]
  - Inflammation [Fatal]
  - Infusion related reaction [Fatal]
  - Injection site reaction [Fatal]
  - Injury [Fatal]
  - Insomnia [Fatal]
  - Intentional product use issue [Fatal]
  - Irritable bowel syndrome [Fatal]
  - Joint range of motion decreased [Fatal]
  - Joint swelling [Fatal]
  - Lip dry [Fatal]
  - Live birth [Fatal]
  - Liver function test increased [Fatal]
  - Liver injury [Fatal]
  - Loss of personal independence in daily activities [Fatal]
  - Lower respiratory tract infection [Fatal]
  - Lung disorder [Fatal]
  - Malaise [Fatal]
  - Maternal exposure during pregnancy [Fatal]
  - Memory impairment [Fatal]
  - Migraine [Fatal]
  - Mobility decreased [Fatal]
  - Muscle injury [Fatal]
  - Muscle spasms [Fatal]
  - Muscular weakness [Fatal]
  - Musculoskeletal stiffness [Fatal]
  - Nail disorder [Fatal]
  - Nasopharyngitis [Fatal]
  - Nausea [Fatal]
  - Neck pain [Fatal]
  - Night sweats [Fatal]
  - Obesity [Fatal]
  - Off label use [Fatal]
  - Onychomadesis [Fatal]
  - Onychomycosis [Fatal]
  - Osteoarthritis [Fatal]
  - Pain [Fatal]
  - Pain in extremity [Fatal]
  - Paraesthesia [Fatal]
  - Pemphigus [Fatal]
  - Pericarditis [Fatal]
  - Peripheral swelling [Fatal]
  - Peripheral venous disease [Fatal]
  - Pneumonia [Fatal]
  - Product label confusion [Fatal]
  - Product quality issue [Fatal]
  - Product use in unapproved indication [Fatal]
  - Psoriatic arthropathy [Fatal]
  - Rash [Fatal]
  - Rheumatic fever [Fatal]
  - Rheumatoid arthritis [Fatal]
  - Sleep disorder [Fatal]
  - Stomatitis [Fatal]
  - Swelling [Fatal]
  - Synovitis [Fatal]
  - Systemic lupus erythematosus [Fatal]
  - Taste disorder [Fatal]
  - Therapeutic product effect decreased [Fatal]
  - Treatment failure [Fatal]
  - Type 2 diabetes mellitus [Fatal]
  - Urticaria [Fatal]
  - Vomiting [Fatal]
  - Weight increased [Fatal]
  - Wheezing [Fatal]
  - Wound [Fatal]
  - Wound infection [Fatal]
  - Decreased appetite [Fatal]
